FAERS Safety Report 24407512 (Version 3)
Quarter: 2025Q2

REPORT INFORMATION
  Report Type: Spontaneous
  Country: CA (occurrence: CA)
  Receive Date: 20241007
  Receipt Date: 20250605
  Transmission Date: 20250716
  Serious: Yes (Death, Life-Threatening, Hospitalization, Other)
  Sender: ALEXION PHARMACEUTICALS
  Company Number: CA-TAKEDA-2024TUS093362

PATIENT
  Age: 65 Year

DRUGS (868)
  1. BREZTRI [Suspect]
     Active Substance: BUDESONIDE\FORMOTEROL\GLYCOPYRROLATE
     Route: 065
  2. BREZTRI [Suspect]
     Active Substance: BUDESONIDE\FORMOTEROL\GLYCOPYRROLATE
     Route: 065
  3. PULMICORT TURBUHALER [Suspect]
     Active Substance: BUDESONIDE
     Route: 065
  4. CANDESARTAN CILEXETIL [Suspect]
     Active Substance: CANDESARTAN CILEXETIL
     Indication: Product used for unknown indication
     Dosage: 1 DOSAGE FORM, QD
     Route: 065
  5. CANDESARTAN CILEXETIL [Suspect]
     Active Substance: CANDESARTAN CILEXETIL
     Dosage: 52 MILLIGRAM, QD
  6. CANDESARTAN CILEXETIL [Suspect]
     Active Substance: CANDESARTAN CILEXETIL
     Dosage: 500 MILLIGRAM, QD
     Route: 065
  7. CANDESARTAN CILEXETIL [Suspect]
     Active Substance: CANDESARTAN CILEXETIL
     Dosage: UNK, QD
     Route: 065
  8. CANDESARTAN CILEXETIL [Suspect]
     Active Substance: CANDESARTAN CILEXETIL
     Route: 065
  9. CANDESARTAN CILEXETIL [Suspect]
     Active Substance: CANDESARTAN CILEXETIL
     Dosage: UNK, QD
     Route: 065
  10. CANDESARTAN CILEXETIL [Suspect]
     Active Substance: CANDESARTAN CILEXETIL
     Dosage: UNK, QD
     Route: 065
  11. CANDESARTAN CILEXETIL [Suspect]
     Active Substance: CANDESARTAN CILEXETIL
     Dosage: 500 MILLIGRAM, QD
     Route: 065
  12. CANDESARTAN CILEXETIL [Suspect]
     Active Substance: CANDESARTAN CILEXETIL
     Dosage: 52 MILLIGRAM, QD
  13. CANDESARTAN CILEXETIL [Suspect]
     Active Substance: CANDESARTAN CILEXETIL
     Dosage: 32 MILLIGRAM, QD
  14. CANDESARTAN CILEXETIL [Suspect]
     Active Substance: CANDESARTAN CILEXETIL
     Dosage: 1 DOSAGE FORM, QD
     Route: 065
  15. CANDESARTAN CILEXETIL [Suspect]
     Active Substance: CANDESARTAN CILEXETIL
     Route: 065
  16. CANDESARTAN CILEXETIL [Suspect]
     Active Substance: CANDESARTAN CILEXETIL
     Dosage: 32 MILLIGRAM, QD
  17. CANDESARTAN CILEXETIL [Suspect]
     Active Substance: CANDESARTAN CILEXETIL
     Dosage: 1 DOSAGE FORM, QD
     Route: 065
  18. CANDESARTAN CILEXETIL [Suspect]
     Active Substance: CANDESARTAN CILEXETIL
     Dosage: UNK, QD
     Route: 065
  19. CANDESARTAN CILEXETIL [Suspect]
     Active Substance: CANDESARTAN CILEXETIL
     Dosage: 1 DOSAGE FORM, QD
     Route: 065
  20. CANDESARTAN CILEXETIL [Suspect]
     Active Substance: CANDESARTAN CILEXETIL
     Route: 065
  21. CANDESARTAN CILEXETIL [Suspect]
     Active Substance: CANDESARTAN CILEXETIL
     Dosage: 1 DOSAGE FORM, QD
     Route: 065
  22. CANDESARTAN CILEXETIL [Suspect]
     Active Substance: CANDESARTAN CILEXETIL
     Dosage: 32 MILLIGRAM, QD
  23. CANDESARTAN CILEXETIL [Suspect]
     Active Substance: CANDESARTAN CILEXETIL
     Dosage: UNK, QD
     Route: 065
  24. CANDESARTAN CILEXETIL [Suspect]
     Active Substance: CANDESARTAN CILEXETIL
     Dosage: UNK, QD
     Route: 065
  25. CANDESARTAN CILEXETIL [Suspect]
     Active Substance: CANDESARTAN CILEXETIL
     Dosage: 1 DOSAGE FORM, QD
     Route: 065
  26. AMOXICILLIN [Suspect]
     Active Substance: AMOXICILLIN
     Indication: Product used for unknown indication
     Route: 065
  27. METFORMIN [Suspect]
     Active Substance: METFORMIN HYDROCHLORIDE
     Indication: Product used for unknown indication
     Route: 065
  28. METFORMIN [Suspect]
     Active Substance: METFORMIN HYDROCHLORIDE
  29. ADVAIR HFA [Suspect]
     Active Substance: FLUTICASONE PROPIONATE\SALMETEROL XINAFOATE
     Indication: Product used for unknown indication
     Route: 065
  30. ADVAIR HFA [Suspect]
     Active Substance: FLUTICASONE PROPIONATE\SALMETEROL XINAFOATE
  31. ADVAIR HFA [Suspect]
     Active Substance: FLUTICASONE PROPIONATE\SALMETEROL XINAFOATE
  32. ALENDRONATE SODIUM [Suspect]
     Active Substance: ALENDRONATE SODIUM
     Indication: Product used for unknown indication
     Dosage: 1 DOSAGE FORM, 1/WEEK
  33. ALENDRONATE SODIUM [Suspect]
     Active Substance: ALENDRONATE SODIUM
     Dosage: 100 MILLIGRAM, QD
  34. ALENDRONATE SODIUM [Suspect]
     Active Substance: ALENDRONATE SODIUM
     Dosage: 70 MILLIGRAM, QD
  35. ALENDRONATE SODIUM [Suspect]
     Active Substance: ALENDRONATE SODIUM
  36. ALENDRONATE SODIUM [Suspect]
     Active Substance: ALENDRONATE SODIUM
  37. ALENDRONATE SODIUM [Suspect]
     Active Substance: ALENDRONATE SODIUM
     Dosage: 70 MILLIGRAM, 1/WEEK
  38. ALENDRONATE SODIUM [Suspect]
     Active Substance: ALENDRONATE SODIUM
  39. ALENDRONATE SODIUM [Suspect]
     Active Substance: ALENDRONATE SODIUM
     Dosage: 100 MILLIGRAM, QD
  40. ALENDRONATE SODIUM [Suspect]
     Active Substance: ALENDRONATE SODIUM
     Dosage: 70 MILLIGRAM, 1/WEEK
  41. ALENDRONATE SODIUM [Suspect]
     Active Substance: ALENDRONATE SODIUM
  42. ALENDRONATE SODIUM [Suspect]
     Active Substance: ALENDRONATE SODIUM
  43. ALENDRONATE SODIUM [Suspect]
     Active Substance: ALENDRONATE SODIUM
  44. ALENDRONATE SODIUM [Suspect]
     Active Substance: ALENDRONATE SODIUM
  45. ALENDRONATE SODIUM [Suspect]
     Active Substance: ALENDRONATE SODIUM
     Dosage: 1 DOSAGE FORM, 1/WEEK
  46. ALENDRONATE SODIUM [Suspect]
     Active Substance: ALENDRONATE SODIUM
  47. ALENDRONATE SODIUM [Suspect]
     Active Substance: ALENDRONATE SODIUM
  48. ALENDRONATE SODIUM [Suspect]
     Active Substance: ALENDRONATE SODIUM
     Dosage: 70 MILLIGRAM, 1/WEEK
  49. ALENDRONATE SODIUM [Suspect]
     Active Substance: ALENDRONATE SODIUM
  50. ALENDRONATE SODIUM [Suspect]
     Active Substance: ALENDRONATE SODIUM
  51. ALENDRONATE SODIUM [Suspect]
     Active Substance: ALENDRONATE SODIUM
  52. ALENDRONATE SODIUM [Suspect]
     Active Substance: ALENDRONATE SODIUM
  53. ALENDRONATE SODIUM [Suspect]
     Active Substance: ALENDRONATE SODIUM
  54. ALENDRONATE SODIUM [Suspect]
     Active Substance: ALENDRONATE SODIUM
  55. ALENDRONATE SODIUM [Suspect]
     Active Substance: ALENDRONATE SODIUM
  56. ALENDRONATE SODIUM [Suspect]
     Active Substance: ALENDRONATE SODIUM
  57. ALENDRONATE SODIUM [Suspect]
     Active Substance: ALENDRONATE SODIUM
  58. ALENDRONATE SODIUM [Suspect]
     Active Substance: ALENDRONATE SODIUM
  59. ALENDRONATE SODIUM [Suspect]
     Active Substance: ALENDRONATE SODIUM
  60. ALENDRONATE SODIUM [Suspect]
     Active Substance: ALENDRONATE SODIUM
  61. ALENDRONATE SODIUM [Suspect]
     Active Substance: ALENDRONATE SODIUM
  62. ALENDRONATE SODIUM [Suspect]
     Active Substance: ALENDRONATE SODIUM
  63. ALENDRONATE SODIUM [Suspect]
     Active Substance: ALENDRONATE SODIUM
  64. ALENDRONATE SODIUM [Suspect]
     Active Substance: ALENDRONATE SODIUM
  65. ALENDRONATE SODIUM [Suspect]
     Active Substance: ALENDRONATE SODIUM
  66. AZATHIOPRINE [Suspect]
     Active Substance: AZATHIOPRINE
     Dosage: 1 DOSAGE FORM, QD
  67. AZATHIOPRINE [Suspect]
     Active Substance: AZATHIOPRINE
     Dosage: 50 MILLIGRAM, QD
  68. AZATHIOPRINE [Suspect]
     Active Substance: AZATHIOPRINE
     Dosage: 100 MILLIGRAM, QD
  69. AZATHIOPRINE [Suspect]
     Active Substance: AZATHIOPRINE
  70. AZATHIOPRINE [Suspect]
     Active Substance: AZATHIOPRINE
     Dosage: 2 MILLIGRAM, QD
  71. AZATHIOPRINE [Suspect]
     Active Substance: AZATHIOPRINE
     Dosage: 1 MILLIGRAM, QD
  72. AZATHIOPRINE [Suspect]
     Active Substance: AZATHIOPRINE
     Dosage: 2 MILLIGRAM, QD
  73. AZATHIOPRINE [Suspect]
     Active Substance: AZATHIOPRINE
     Dosage: 100 MILLIGRAM, QD
  74. AZATHIOPRINE [Suspect]
     Active Substance: AZATHIOPRINE
     Dosage: 50 MILLIGRAM, QD
  75. AZATHIOPRINE [Suspect]
     Active Substance: AZATHIOPRINE
     Dosage: 1 DOSAGE FORM, QD
  76. BETA GLUCAN [Suspect]
     Active Substance: BETA GLUCAN
     Indication: Product used for unknown indication
     Route: 065
  77. BETA GLUCAN [Suspect]
     Active Substance: BETA GLUCAN
  78. BETA GLUCAN [Suspect]
     Active Substance: BETA GLUCAN
  79. BETA GLUCAN [Suspect]
     Active Substance: BETA GLUCAN
  80. BETAMETHASONE [Suspect]
     Active Substance: BETAMETHASONE
     Indication: Product used for unknown indication
     Route: 065
  81. BETAMETHASONE [Suspect]
     Active Substance: BETAMETHASONE
  82. BETAMETHASONE DIPROPIONATE [Suspect]
     Active Substance: BETAMETHASONE DIPROPIONATE
     Indication: Product used for unknown indication
     Route: 065
  83. BETAMETHASONE DIPROPIONATE [Suspect]
     Active Substance: BETAMETHASONE DIPROPIONATE
  84. BETAMETHASONE DIPROPIONATE [Suspect]
     Active Substance: BETAMETHASONE DIPROPIONATE
  85. BETAMETHASONE DIPROPIONATE [Suspect]
     Active Substance: BETAMETHASONE DIPROPIONATE
  86. BETAMETHASONE DIPROPIONATE [Suspect]
     Active Substance: BETAMETHASONE DIPROPIONATE
  87. BETAMETHASONE DIPROPIONATE [Suspect]
     Active Substance: BETAMETHASONE DIPROPIONATE
  88. BETAMETHASONE DIPROPIONATE [Suspect]
     Active Substance: BETAMETHASONE DIPROPIONATE
  89. BETAMETHASONE DIPROPIONATE [Suspect]
     Active Substance: BETAMETHASONE DIPROPIONATE
  90. BETAMETHASONE DIPROPIONATE [Suspect]
     Active Substance: BETAMETHASONE DIPROPIONATE
  91. BETAMETHASONE DIPROPIONATE [Suspect]
     Active Substance: BETAMETHASONE DIPROPIONATE
  92. BETAMETHASONE DIPROPIONATE [Suspect]
     Active Substance: BETAMETHASONE DIPROPIONATE
  93. BETAMETHASONE DIPROPIONATE [Suspect]
     Active Substance: BETAMETHASONE DIPROPIONATE
  94. BETAMETHASONE DIPROPIONATE [Suspect]
     Active Substance: BETAMETHASONE DIPROPIONATE
  95. BETAMETHASONE DIPROPIONATE [Suspect]
     Active Substance: BETAMETHASONE DIPROPIONATE
  96. BETAMETHASONE DIPROPIONATE [Suspect]
     Active Substance: BETAMETHASONE DIPROPIONATE
  97. BETAMETHASONE DIPROPIONATE [Suspect]
     Active Substance: BETAMETHASONE DIPROPIONATE
  98. BETAMETHASONE DIPROPIONATE [Suspect]
     Active Substance: BETAMETHASONE DIPROPIONATE
  99. BETAMETHASONE DIPROPIONATE [Suspect]
     Active Substance: BETAMETHASONE DIPROPIONATE
  100. BREO ELLIPTA [Suspect]
     Active Substance: FLUTICASONE FUROATE\VILANTEROL TRIFENATATE
     Indication: Product used for unknown indication
     Route: 065
  101. BREO ELLIPTA [Suspect]
     Active Substance: FLUTICASONE FUROATE\VILANTEROL TRIFENATATE
  102. BREO ELLIPTA [Suspect]
     Active Substance: FLUTICASONE FUROATE\VILANTEROL TRIFENATATE
  103. CALCIUM PANTOTHENATE\CYANOCOBALAMIN\NIACINAMIDE\PYRIDOXINE HYDROCHLORI [Suspect]
     Active Substance: CALCIUM PANTOTHENATE\CYANOCOBALAMIN\NIACINAMIDE\PYRIDOXINE HYDROCHLORIDE\RIBOFLAVIN\THIAMINE HYDROCH
     Indication: Product used for unknown indication
     Route: 065
  104. CALCIUM PANTOTHENATE\CYANOCOBALAMIN\NIACINAMIDE\PYRIDOXINE HYDROCHLORI [Suspect]
     Active Substance: CALCIUM PANTOTHENATE\CYANOCOBALAMIN\NIACINAMIDE\PYRIDOXINE HYDROCHLORIDE\RIBOFLAVIN\THIAMINE HYDROCH
  105. CALCIUM PANTOTHENATE\CYANOCOBALAMIN\NIACINAMIDE\PYRIDOXINE HYDROCHLORI [Suspect]
     Active Substance: CALCIUM PANTOTHENATE\CYANOCOBALAMIN\NIACINAMIDE\PYRIDOXINE HYDROCHLORIDE\RIBOFLAVIN\THIAMINE HYDROCH
  106. CALCIUM PANTOTHENATE\CYANOCOBALAMIN\NIACINAMIDE\PYRIDOXINE HYDROCHLORI [Suspect]
     Active Substance: CALCIUM PANTOTHENATE\CYANOCOBALAMIN\NIACINAMIDE\PYRIDOXINE HYDROCHLORIDE\RIBOFLAVIN\THIAMINE HYDROCH
  107. CEFUROXIME [Suspect]
     Active Substance: CEFUROXIME
     Indication: Product used for unknown indication
  108. CEFUROXIME [Suspect]
     Active Substance: CEFUROXIME
  109. CEFUROXIME [Suspect]
     Active Substance: CEFUROXIME
  110. CEFUROXIME [Suspect]
     Active Substance: CEFUROXIME
  111. CEFUROXIME [Suspect]
     Active Substance: CEFUROXIME
  112. CEFUROXIME [Suspect]
     Active Substance: CEFUROXIME
     Dosage: 500 MILLIGRAM, QD
  113. CEFUROXIME [Suspect]
     Active Substance: CEFUROXIME
  114. CEFUROXIME [Suspect]
     Active Substance: CEFUROXIME
  115. CEFUROXIME [Suspect]
     Active Substance: CEFUROXIME
  116. CEFUROXIME [Suspect]
     Active Substance: CEFUROXIME
  117. CEFUROXIME [Suspect]
     Active Substance: CEFUROXIME
  118. CEFUROXIME [Suspect]
     Active Substance: CEFUROXIME
     Dosage: 1 MILLIGRAM, QD
  119. CEFUROXIME [Suspect]
     Active Substance: CEFUROXIME
     Dosage: 1000 MILLIGRAM, BID
  120. CEFUROXIME [Suspect]
     Active Substance: CEFUROXIME
  121. CEFUROXIME [Suspect]
     Active Substance: CEFUROXIME
  122. CEPHALEXIN [Suspect]
     Active Substance: CEPHALEXIN
     Indication: Product used for unknown indication
     Route: 065
  123. CEPHALEXIN [Suspect]
     Active Substance: CEPHALEXIN
  124. CEPHALEXIN [Suspect]
     Active Substance: CEPHALEXIN
  125. CEPHALEXIN [Suspect]
     Active Substance: CEPHALEXIN
  126. CEPHALEXIN [Suspect]
     Active Substance: CEPHALEXIN
  127. CEPHALEXIN [Suspect]
     Active Substance: CEPHALEXIN
  128. CEPHALEXIN [Suspect]
     Active Substance: CEPHALEXIN
  129. CEPHALEXIN [Suspect]
     Active Substance: CEPHALEXIN
  130. CEPHALEXIN [Suspect]
     Active Substance: CEPHALEXIN
  131. CEPHALEXIN [Suspect]
     Active Substance: CEPHALEXIN
  132. CEPHALEXIN [Suspect]
     Active Substance: CEPHALEXIN
  133. CEPHALEXIN [Suspect]
     Active Substance: CEPHALEXIN
  134. CLOTRIMAZOLE [Suspect]
     Active Substance: CLOTRIMAZOLE
     Indication: Product used for unknown indication
     Dosage: 1 DOSAGE FORM, QD
  135. CLOTRIMAZOLE [Suspect]
     Active Substance: CLOTRIMAZOLE
  136. CUPRIC SULFATE ANHYDROUS [Suspect]
     Active Substance: CUPRIC SULFATE ANHYDROUS
     Indication: Product used for unknown indication
  137. CUPRIC SULFATE ANHYDROUS [Suspect]
     Active Substance: CUPRIC SULFATE ANHYDROUS
  138. CUPRIC SULFATE ANHYDROUS [Suspect]
     Active Substance: CUPRIC SULFATE ANHYDROUS
  139. CUPRIC SULFATE ANHYDROUS [Suspect]
     Active Substance: CUPRIC SULFATE ANHYDROUS
  140. .ALPHA.-TOCOPHEROL ACETATE, D- [Suspect]
     Active Substance: .ALPHA.-TOCOPHEROL ACETATE, D-
     Indication: Product used for unknown indication
  141. .ALPHA.-TOCOPHEROL ACETATE, D- [Suspect]
     Active Substance: .ALPHA.-TOCOPHEROL ACETATE, D-
  142. .ALPHA.-TOCOPHEROL ACETATE, D- [Suspect]
     Active Substance: .ALPHA.-TOCOPHEROL ACETATE, D-
  143. .ALPHA.-TOCOPHEROL ACETATE, D- [Suspect]
     Active Substance: .ALPHA.-TOCOPHEROL ACETATE, D-
  144. METOPROLOL SUCCINATE [Suspect]
     Active Substance: METOPROLOL SUCCINATE
  145. METOPROLOL SUCCINATE [Suspect]
     Active Substance: METOPROLOL SUCCINATE
  146. METOPROLOL SUCCINATE [Suspect]
     Active Substance: METOPROLOL SUCCINATE
  147. METOPROLOL SUCCINATE [Suspect]
     Active Substance: METOPROLOL SUCCINATE
  148. METOPROLOL SUCCINATE [Suspect]
     Active Substance: METOPROLOL SUCCINATE
  149. METOPROLOL SUCCINATE [Suspect]
     Active Substance: METOPROLOL SUCCINATE
  150. DOMPERIDONE MALEATE [Suspect]
     Active Substance: DOMPERIDONE MALEATE
     Indication: Product used for unknown indication
  151. DOMPERIDONE MALEATE [Suspect]
     Active Substance: DOMPERIDONE MALEATE
     Dosage: 20 MILLIGRAM, BID
  152. DOMPERIDONE MALEATE [Suspect]
     Active Substance: DOMPERIDONE MALEATE
  153. DOMPERIDONE MALEATE [Suspect]
     Active Substance: DOMPERIDONE MALEATE
     Dosage: 2 MILLIGRAM, BID
  154. DOMPERIDONE MALEATE [Suspect]
     Active Substance: DOMPERIDONE MALEATE
     Dosage: 1 MILLIGRAM, QD
  155. DOMPERIDONE MALEATE [Suspect]
     Active Substance: DOMPERIDONE MALEATE
     Dosage: 2 MILLIGRAM, QD
  156. DOMPERIDONE MALEATE [Suspect]
     Active Substance: DOMPERIDONE MALEATE
  157. DOMPERIDONE MALEATE [Suspect]
     Active Substance: DOMPERIDONE MALEATE
  158. DOMPERIDONE MALEATE [Suspect]
     Active Substance: DOMPERIDONE MALEATE
     Dosage: 10 MILLIGRAM, QD
  159. DOMPERIDONE MALEATE [Suspect]
     Active Substance: DOMPERIDONE MALEATE
  160. DOMPERIDONE MALEATE [Suspect]
     Active Substance: DOMPERIDONE MALEATE
  161. DOMPERIDONE MALEATE [Suspect]
     Active Substance: DOMPERIDONE MALEATE
  162. DOMPERIDONE MALEATE [Suspect]
     Active Substance: DOMPERIDONE MALEATE
  163. DOMPERIDONE MALEATE [Suspect]
     Active Substance: DOMPERIDONE MALEATE
  164. DOMPERIDONE MALEATE [Suspect]
     Active Substance: DOMPERIDONE MALEATE
     Dosage: 20 MILLIGRAM, QD
  165. DOMPERIDONE MALEATE [Suspect]
     Active Substance: DOMPERIDONE MALEATE
  166. DOMPERIDONE MALEATE [Suspect]
     Active Substance: DOMPERIDONE MALEATE
  167. DOMPERIDONE MALEATE [Suspect]
     Active Substance: DOMPERIDONE MALEATE
  168. DOMPERIDONE MALEATE [Suspect]
     Active Substance: DOMPERIDONE MALEATE
  169. DOMPERIDONE MALEATE [Suspect]
     Active Substance: DOMPERIDONE MALEATE
  170. DOMPERIDONE MALEATE [Suspect]
     Active Substance: DOMPERIDONE MALEATE
  171. DOMPERIDONE MALEATE [Suspect]
     Active Substance: DOMPERIDONE MALEATE
     Dosage: 10 MILLIGRAM, BID
  172. DOMPERIDONE MALEATE [Suspect]
     Active Substance: DOMPERIDONE MALEATE
     Dosage: 2 DOSAGE FORM, Q12H
  173. DOMPERIDONE MALEATE [Suspect]
     Active Substance: DOMPERIDONE MALEATE
  174. DOMPERIDONE MALEATE [Suspect]
     Active Substance: DOMPERIDONE MALEATE
  175. DOMPERIDONE MALEATE [Suspect]
     Active Substance: DOMPERIDONE MALEATE
  176. DOMPERIDONE MALEATE [Suspect]
     Active Substance: DOMPERIDONE MALEATE
     Dosage: 2 DOSAGE FORM, QD
  177. DOMPERIDONE MALEATE [Suspect]
     Active Substance: DOMPERIDONE MALEATE
     Dosage: 10 MILLIGRAM, BID
  178. DOMPERIDONE MALEATE [Suspect]
     Active Substance: DOMPERIDONE MALEATE
     Dosage: 10 MILLIGRAM, QD
  179. DOMPERIDONE MALEATE [Suspect]
     Active Substance: DOMPERIDONE MALEATE
  180. DOMPERIDONE MALEATE [Suspect]
     Active Substance: DOMPERIDONE MALEATE
  181. DOMPERIDONE MALEATE [Suspect]
     Active Substance: DOMPERIDONE MALEATE
  182. DOMPERIDONE MALEATE [Suspect]
     Active Substance: DOMPERIDONE MALEATE
  183. DOMPERIDONE MALEATE [Suspect]
     Active Substance: DOMPERIDONE MALEATE
  184. DOMPERIDONE MALEATE [Suspect]
     Active Substance: DOMPERIDONE MALEATE
     Dosage: 1 DOSAGE FORM, QD
  185. DOMPERIDONE MALEATE [Suspect]
     Active Substance: DOMPERIDONE MALEATE
  186. DOMPERIDONE MALEATE [Suspect]
     Active Substance: DOMPERIDONE MALEATE
  187. DOMPERIDONE MALEATE [Suspect]
     Active Substance: DOMPERIDONE MALEATE
  188. DOMPERIDONE MALEATE [Suspect]
     Active Substance: DOMPERIDONE MALEATE
  189. DOMPERIDONE MALEATE [Suspect]
     Active Substance: DOMPERIDONE MALEATE
  190. DOMPERIDONE MALEATE [Suspect]
     Active Substance: DOMPERIDONE MALEATE
  191. DOMPERIDONE MALEATE [Suspect]
     Active Substance: DOMPERIDONE MALEATE
  192. DOMPERIDONE MALEATE [Suspect]
     Active Substance: DOMPERIDONE MALEATE
  193. DOMPERIDONE MALEATE [Suspect]
     Active Substance: DOMPERIDONE MALEATE
  194. DOMPERIDONE MALEATE [Suspect]
     Active Substance: DOMPERIDONE MALEATE
  195. DOMPERIDONE MALEATE [Suspect]
     Active Substance: DOMPERIDONE MALEATE
  196. DOMPERIDONE MALEATE [Suspect]
     Active Substance: DOMPERIDONE MALEATE
  197. DOMPERIDONE MALEATE [Suspect]
     Active Substance: DOMPERIDONE MALEATE
  198. DOMPERIDONE MALEATE [Suspect]
     Active Substance: DOMPERIDONE MALEATE
  199. DOMPERIDONE MALEATE [Suspect]
     Active Substance: DOMPERIDONE MALEATE
  200. DOMPERIDONE MALEATE [Suspect]
     Active Substance: DOMPERIDONE MALEATE
  201. DOMPERIDONE MALEATE [Suspect]
     Active Substance: DOMPERIDONE MALEATE
  202. DOMPERIDONE MALEATE [Suspect]
     Active Substance: DOMPERIDONE MALEATE
  203. DOMPERIDONE MALEATE [Suspect]
     Active Substance: DOMPERIDONE MALEATE
  204. DOMPERIDONE MALEATE [Suspect]
     Active Substance: DOMPERIDONE MALEATE
  205. DOXAZOSIN [Suspect]
     Active Substance: DOXAZOSIN MESYLATE
     Indication: Product used for unknown indication
  206. DOXAZOSIN [Suspect]
     Active Substance: DOXAZOSIN MESYLATE
  207. DUTASTERIDE [Suspect]
     Active Substance: DUTASTERIDE
     Indication: Product used for unknown indication
  208. DUTASTERIDE [Suspect]
     Active Substance: DUTASTERIDE
  209. DUTASTERIDE [Suspect]
     Active Substance: DUTASTERIDE
  210. DUTASTERIDE [Suspect]
     Active Substance: DUTASTERIDE
  211. ELIQUIS [Suspect]
     Active Substance: APIXABAN
     Indication: Product used for unknown indication
  212. ELIQUIS [Suspect]
     Active Substance: APIXABAN
  213. ELIQUIS [Suspect]
     Active Substance: APIXABAN
     Dosage: 750 MILLIGRAM, QD
  214. ERGOCALCIFEROL [Suspect]
     Active Substance: ERGOCALCIFEROL
     Indication: Product used for unknown indication
  215. ERGOCALCIFEROL [Suspect]
     Active Substance: ERGOCALCIFEROL
  216. ERGOCALCIFEROL [Suspect]
     Active Substance: ERGOCALCIFEROL
  217. ERGOCALCIFEROL [Suspect]
     Active Substance: ERGOCALCIFEROL
  218. FORMOTEROL FUMARATE [Suspect]
     Active Substance: FORMOTEROL FUMARATE
     Route: 065
  219. FUROSEMIDE [Suspect]
     Active Substance: FUROSEMIDE
  220. FUROSEMIDE [Suspect]
     Active Substance: FUROSEMIDE
  221. FUROSEMIDE [Suspect]
     Active Substance: FUROSEMIDE
  222. FUROSEMIDE [Suspect]
     Active Substance: FUROSEMIDE
     Dosage: 40 MILLIGRAM, QD
  223. FUROSEMIDE [Suspect]
     Active Substance: FUROSEMIDE
  224. FUROSEMIDE [Suspect]
     Active Substance: FUROSEMIDE
  225. FUROSEMIDE [Suspect]
     Active Substance: FUROSEMIDE
  226. FUROSEMIDE [Suspect]
     Active Substance: FUROSEMIDE
  227. FUROSEMIDE [Suspect]
     Active Substance: FUROSEMIDE
  228. FUROSEMIDE [Suspect]
     Active Substance: FUROSEMIDE
  229. FUROSEMIDE [Suspect]
     Active Substance: FUROSEMIDE
  230. FUROSEMIDE [Suspect]
     Active Substance: FUROSEMIDE
  231. FUROSEMIDE [Suspect]
     Active Substance: FUROSEMIDE
  232. FUROSEMIDE [Suspect]
     Active Substance: FUROSEMIDE
  233. FUROSEMIDE [Suspect]
     Active Substance: FUROSEMIDE
     Dosage: 2 DOSAGE FORM, QD
  234. FUROSEMIDE [Suspect]
     Active Substance: FUROSEMIDE
     Dosage: 1 DOSAGE FORM, QD
  235. FUROSEMIDE [Suspect]
     Active Substance: FUROSEMIDE
     Dosage: 1 DOSAGE FORM, QD
  236. FUROSEMIDE [Suspect]
     Active Substance: FUROSEMIDE
  237. FUROSEMIDE [Suspect]
     Active Substance: FUROSEMIDE
     Dosage: 1 MILLIGRAM, QD
  238. FUROSEMIDE [Suspect]
     Active Substance: FUROSEMIDE
  239. FUROSEMIDE [Suspect]
     Active Substance: FUROSEMIDE
  240. FUROSEMIDE [Suspect]
     Active Substance: FUROSEMIDE
  241. FUROSEMIDE [Suspect]
     Active Substance: FUROSEMIDE
  242. FUROSEMIDE [Suspect]
     Active Substance: FUROSEMIDE
  243. FUROSEMIDE [Suspect]
     Active Substance: FUROSEMIDE
  244. FUROSEMIDE [Suspect]
     Active Substance: FUROSEMIDE
  245. FUROSEMIDE [Suspect]
     Active Substance: FUROSEMIDE
  246. FUROSEMIDE [Suspect]
     Active Substance: FUROSEMIDE
  247. FUROSEMIDE [Suspect]
     Active Substance: FUROSEMIDE
  248. FUROSEMIDE [Suspect]
     Active Substance: FUROSEMIDE
  249. FUROSEMIDE [Suspect]
     Active Substance: FUROSEMIDE
  250. GLUCAGON [Suspect]
     Active Substance: GLUCAGON
     Indication: Product used for unknown indication
  251. GLUCAGON [Suspect]
     Active Substance: GLUCAGON
     Dosage: 1 MILLIGRAM, QD
  252. GLUCAGON [Suspect]
     Active Substance: GLUCAGON
  253. HYDROCHLOROTHIAZIDE [Suspect]
     Active Substance: HYDROCHLOROTHIAZIDE
     Indication: Product used for unknown indication
  254. HYDROCHLOROTHIAZIDE [Suspect]
     Active Substance: HYDROCHLOROTHIAZIDE
  255. HYDROCHLOROTHIAZIDE [Suspect]
     Active Substance: HYDROCHLOROTHIAZIDE
  256. HYDROCHLOROTHIAZIDE [Suspect]
     Active Substance: HYDROCHLOROTHIAZIDE
     Dosage: 1 DOSAGE FORM, QD
  257. HYDROCHLOROTHIAZIDE [Suspect]
     Active Substance: HYDROCHLOROTHIAZIDE
     Dosage: 750 MILLIGRAM, QD
  258. HYDROCHLOROTHIAZIDE [Suspect]
     Active Substance: HYDROCHLOROTHIAZIDE
  259. HYDROCHLOROTHIAZIDE [Suspect]
     Active Substance: HYDROCHLOROTHIAZIDE
  260. IMURAN [Suspect]
     Active Substance: AZATHIOPRINE
     Indication: Product used for unknown indication
     Dosage: 1 DOSAGE FORM, QD
  261. INSULIN GLARGINE [Suspect]
     Active Substance: INSULIN GLARGINE
     Indication: Product used for unknown indication
     Dosage: 1 DOSAGE FORM, QD
  262. INSULIN GLARGINE [Suspect]
     Active Substance: INSULIN GLARGINE
  263. INSULIN GLARGINE [Suspect]
     Active Substance: INSULIN GLARGINE
  264. INSULIN GLARGINE [Suspect]
     Active Substance: INSULIN GLARGINE
  265. INSULIN GLARGINE [Suspect]
     Active Substance: INSULIN GLARGINE
  266. INSULIN GLARGINE [Suspect]
     Active Substance: INSULIN GLARGINE
  267. INSULIN GLARGINE [Suspect]
     Active Substance: INSULIN GLARGINE
  268. INSULIN GLARGINE [Suspect]
     Active Substance: INSULIN GLARGINE
  269. INSULIN GLARGINE [Suspect]
     Active Substance: INSULIN GLARGINE
  270. INSULIN GLARGINE [Suspect]
     Active Substance: INSULIN GLARGINE
     Dosage: 1 DOSAGE FORM, QD
  271. INSULIN GLARGINE [Suspect]
     Active Substance: INSULIN GLARGINE
     Dosage: 1 DOSAGE FORM, QD
  272. INSULIN GLARGINE [Suspect]
     Active Substance: INSULIN GLARGINE
  273. INSULIN GLARGINE [Suspect]
     Active Substance: INSULIN GLARGINE
  274. INSULIN GLARGINE [Suspect]
     Active Substance: INSULIN GLARGINE
  275. INSULIN GLARGINE [Suspect]
     Active Substance: INSULIN GLARGINE
  276. INSULIN GLARGINE [Suspect]
     Active Substance: INSULIN GLARGINE
  277. INSULIN GLARGINE [Suspect]
     Active Substance: INSULIN GLARGINE
  278. INSULIN GLARGINE [Suspect]
     Active Substance: INSULIN GLARGINE
  279. INSULIN GLARGINE [Suspect]
     Active Substance: INSULIN GLARGINE
  280. INSULIN GLARGINE [Suspect]
     Active Substance: INSULIN GLARGINE
  281. FERROUS SULFATE ANHYDROUS [Suspect]
     Active Substance: FERROUS SULFATE ANHYDROUS
     Indication: Product used for unknown indication
  282. FERROUS SULFATE ANHYDROUS [Suspect]
     Active Substance: FERROUS SULFATE ANHYDROUS
  283. FERROUS SULFATE ANHYDROUS [Suspect]
     Active Substance: FERROUS SULFATE ANHYDROUS
  284. FERROUS SULFATE ANHYDROUS [Suspect]
     Active Substance: FERROUS SULFATE ANHYDROUS
  285. LASIX [Suspect]
     Active Substance: FUROSEMIDE
     Indication: Product used for unknown indication
     Dosage: 1 DOSAGE FORM, QD
  286. LASIX [Suspect]
     Active Substance: FUROSEMIDE
     Dosage: 1 DOSAGE FORM, QD
  287. LASIX [Suspect]
     Active Substance: FUROSEMIDE
  288. LASIX [Suspect]
     Active Substance: FUROSEMIDE
  289. LEVOFLOXACIN [Suspect]
     Active Substance: LEVOFLOXACIN
     Indication: Product used for unknown indication
     Dosage: 3 DOSAGE FORM, QD
  290. LEVOFLOXACIN [Suspect]
     Active Substance: LEVOFLOXACIN
     Dosage: 750 MILLIGRAM, QD
  291. LEVOFLOXACIN [Suspect]
     Active Substance: LEVOFLOXACIN
  292. LEVOFLOXACIN [Suspect]
     Active Substance: LEVOFLOXACIN
  293. LEVOFLOXACIN [Suspect]
     Active Substance: LEVOFLOXACIN
  294. LEVOFLOXACIN [Suspect]
     Active Substance: LEVOFLOXACIN
  295. LEVOFLOXACIN [Suspect]
     Active Substance: LEVOFLOXACIN
  296. LEVOFLOXACIN [Suspect]
     Active Substance: LEVOFLOXACIN
  297. LEVOFLOXACIN [Suspect]
     Active Substance: LEVOFLOXACIN
  298. LEVOFLOXACIN [Suspect]
     Active Substance: LEVOFLOXACIN
  299. LEVOFLOXACIN [Suspect]
     Active Substance: LEVOFLOXACIN
  300. LEVOFLOXACIN [Suspect]
     Active Substance: LEVOFLOXACIN
  301. LEVOFLOXACIN [Suspect]
     Active Substance: LEVOFLOXACIN
  302. LEVOFLOXACIN [Suspect]
     Active Substance: LEVOFLOXACIN
  303. LEVOFLOXACIN [Suspect]
     Active Substance: LEVOFLOXACIN
  304. LEVOFLOXACIN [Suspect]
     Active Substance: LEVOFLOXACIN
  305. LEVOFLOXACIN [Suspect]
     Active Substance: LEVOFLOXACIN
     Dosage: 750 MILLIGRAM, QD
  306. LEVOFLOXACIN [Suspect]
     Active Substance: LEVOFLOXACIN
     Dosage: 1 DOSAGE FORM, QD
  307. LEVOFLOXACIN [Suspect]
     Active Substance: LEVOFLOXACIN
     Dosage: 3 DOSAGE FORM, QD
  308. LEVOFLOXACIN [Suspect]
     Active Substance: LEVOFLOXACIN
     Dosage: 1 DOSAGE FORM, QD
  309. LEVOFLOXACIN [Suspect]
     Active Substance: LEVOFLOXACIN
     Dosage: 750 MILLIGRAM, QD
  310. LEVOFLOXACIN [Suspect]
     Active Substance: LEVOFLOXACIN
     Dosage: 750 MILLIGRAM, QD
  311. LEVOFLOXACIN [Suspect]
     Active Substance: LEVOFLOXACIN
  312. LEVOFLOXACIN [Suspect]
     Active Substance: LEVOFLOXACIN
  313. LEVOFLOXACIN [Suspect]
     Active Substance: LEVOFLOXACIN
  314. LEVOFLOXACIN [Suspect]
     Active Substance: LEVOFLOXACIN
  315. LEVOFLOXACIN [Suspect]
     Active Substance: LEVOFLOXACIN
  316. LEVOFLOXACIN [Suspect]
     Active Substance: LEVOFLOXACIN
  317. LEVOFLOXACIN [Suspect]
     Active Substance: LEVOFLOXACIN
  318. LEVOFLOXACIN [Suspect]
     Active Substance: LEVOFLOXACIN
  319. LEVOFLOXACIN HEMIHYDRATE [Suspect]
     Active Substance: LEVOFLOXACIN
     Indication: Product used for unknown indication
     Dosage: 1 DOSAGE FORM, QD
  320. LEVOFLOXACIN HEMIHYDRATE [Suspect]
     Active Substance: LEVOFLOXACIN
  321. LEVOFLOXACIN HEMIHYDRATE [Suspect]
     Active Substance: LEVOFLOXACIN
  322. LEVOFLOXACIN HEMIHYDRATE [Suspect]
     Active Substance: LEVOFLOXACIN
     Dosage: 3 DOSAGE FORM, QD
  323. LEVOFLOXACIN HEMIHYDRATE [Suspect]
     Active Substance: LEVOFLOXACIN
  324. LIRAGLUTIDE [Suspect]
     Active Substance: LIRAGLUTIDE
     Indication: Product used for unknown indication
     Route: 065
  325. LIRAGLUTIDE [Suspect]
     Active Substance: LIRAGLUTIDE
  326. LIRAGLUTIDE [Suspect]
     Active Substance: LIRAGLUTIDE
  327. MAGNESIUM OXIDE [Suspect]
     Active Substance: MAGNESIUM OXIDE
     Indication: Product used for unknown indication
     Dosage: 420 MILLIGRAM, Q12H
  328. MAGNESIUM OXIDE [Suspect]
     Active Substance: MAGNESIUM OXIDE
  329. MAGNESIUM OXIDE [Suspect]
     Active Substance: MAGNESIUM OXIDE
  330. MAGNESIUM OXIDE [Suspect]
     Active Substance: MAGNESIUM OXIDE
  331. MAGNESIUM OXIDE [Suspect]
     Active Substance: MAGNESIUM OXIDE
  332. MAGNESIUM OXIDE [Suspect]
     Active Substance: MAGNESIUM OXIDE
  333. MAGNESIUM OXIDE [Suspect]
     Active Substance: MAGNESIUM OXIDE
  334. MAGNESIUM OXIDE [Suspect]
     Active Substance: MAGNESIUM OXIDE
     Dosage: 2 DOSAGE FORM, QD
  335. MAGNESIUM OXIDE [Suspect]
     Active Substance: MAGNESIUM OXIDE
     Dosage: 840 MILLIGRAM, QD
  336. MAGNESIUM OXIDE [Suspect]
     Active Substance: MAGNESIUM OXIDE
  337. MAGNESIUM OXIDE [Suspect]
     Active Substance: MAGNESIUM OXIDE
  338. MAGNESIUM OXIDE [Suspect]
     Active Substance: MAGNESIUM OXIDE
     Dosage: 1 DOSAGE FORM, Q12H
  339. MAGNESIUM OXIDE [Suspect]
     Active Substance: MAGNESIUM OXIDE
     Dosage: 2 DOSAGE FORM, QD
  340. MAGNESIUM OXIDE [Suspect]
     Active Substance: MAGNESIUM OXIDE
     Dosage: 1 DOSAGE FORM, Q12H
  341. MAGNESIUM OXIDE [Suspect]
     Active Substance: MAGNESIUM OXIDE
  342. MAGNESIUM OXIDE [Suspect]
     Active Substance: MAGNESIUM OXIDE
  343. MAGNESIUM OXIDE [Suspect]
     Active Substance: MAGNESIUM OXIDE
  344. MAGNESIUM OXIDE [Suspect]
     Active Substance: MAGNESIUM OXIDE
     Dosage: 1 DOSAGE FORM, Q12H
  345. MAGNESIUM OXIDE [Suspect]
     Active Substance: MAGNESIUM OXIDE
     Dosage: 840 MILLIGRAM, QD
  346. MAGNESIUM OXIDE [Suspect]
     Active Substance: MAGNESIUM OXIDE
  347. MAGNESIUM OXIDE [Suspect]
     Active Substance: MAGNESIUM OXIDE
     Dosage: 420 MILLIGRAM, BID
  348. MAGNESIUM OXIDE [Suspect]
     Active Substance: MAGNESIUM OXIDE
  349. MAGNESIUM OXIDE [Suspect]
     Active Substance: MAGNESIUM OXIDE
  350. MAGNESIUM OXIDE [Suspect]
     Active Substance: MAGNESIUM OXIDE
  351. MAGNESIUM OXIDE [Suspect]
     Active Substance: MAGNESIUM OXIDE
  352. MAGNESIUM OXIDE [Suspect]
     Active Substance: MAGNESIUM OXIDE
  353. MAGNESIUM OXIDE [Suspect]
     Active Substance: MAGNESIUM OXIDE
  354. MAGNESIUM OXIDE [Suspect]
     Active Substance: MAGNESIUM OXIDE
  355. MAGNESIUM OXIDE [Suspect]
     Active Substance: MAGNESIUM OXIDE
  356. MAGNESIUM OXIDE [Suspect]
     Active Substance: MAGNESIUM OXIDE
  357. MAGNESIUM OXIDE [Suspect]
     Active Substance: MAGNESIUM OXIDE
  358. MAGNESIUM OXIDE [Suspect]
     Active Substance: MAGNESIUM OXIDE
  359. MAGNESIUM OXIDE [Suspect]
     Active Substance: MAGNESIUM OXIDE
  360. MONTELUKAST SODIUM [Suspect]
     Active Substance: MONTELUKAST SODIUM
     Indication: Product used for unknown indication
  361. MONTELUKAST SODIUM [Suspect]
     Active Substance: MONTELUKAST SODIUM
  362. MONTELUKAST SODIUM [Suspect]
     Active Substance: MONTELUKAST SODIUM
  363. MONTELUKAST SODIUM [Suspect]
     Active Substance: MONTELUKAST SODIUM
  364. MORNIFLUMATE [Suspect]
     Active Substance: MORNIFLUMATE
     Indication: Product used for unknown indication
     Dosage: 1 DOSAGE FORM, QD
  365. MORNIFLUMATE [Suspect]
     Active Substance: MORNIFLUMATE
  366. MORNIFLUMATE [Suspect]
     Active Substance: MORNIFLUMATE
     Dosage: 1 DOSAGE FORM, 1/WEEK
  367. MORNIFLUMATE [Suspect]
     Active Substance: MORNIFLUMATE
     Dosage: 1 DOSAGE FORM, QD
  368. MORNIFLUMATE [Suspect]
     Active Substance: MORNIFLUMATE
     Dosage: 1 DOSAGE FORM, QD
  369. MOXIFLOXACIN [Suspect]
     Active Substance: MOXIFLOXACIN
     Indication: Product used for unknown indication
  370. MOXIFLOXACIN [Suspect]
     Active Substance: MOXIFLOXACIN
  371. NICOTINAMIDE [Suspect]
     Active Substance: NIACINAMIDE
     Indication: Product used for unknown indication
  372. NICOTINAMIDE [Suspect]
     Active Substance: NIACINAMIDE
  373. NICOTINAMIDE [Suspect]
     Active Substance: NIACINAMIDE
  374. NICOTINAMIDE [Suspect]
     Active Substance: NIACINAMIDE
  375. NOVORAPID [Suspect]
     Active Substance: INSULIN ASPART
     Indication: Product used for unknown indication
     Dosage: 1 DOSAGE FORM, QD
  376. NUCALA [Suspect]
     Active Substance: MEPOLIZUMAB
     Indication: Product used for unknown indication
  377. NUCALA [Suspect]
     Active Substance: MEPOLIZUMAB
  378. NUCALA [Suspect]
     Active Substance: MEPOLIZUMAB
  379. NUCALA [Suspect]
     Active Substance: MEPOLIZUMAB
  380. AZITHROMYCIN [Suspect]
     Active Substance: AZITHROMYCIN
     Indication: Product used for unknown indication
  381. AZITHROMYCIN [Suspect]
     Active Substance: AZITHROMYCIN
  382. AZITHROMYCIN [Suspect]
     Active Substance: AZITHROMYCIN
  383. AZITHROMYCIN [Suspect]
     Active Substance: AZITHROMYCIN
  384. AZITHROMYCIN [Suspect]
     Active Substance: AZITHROMYCIN
  385. AZITHROMYCIN [Suspect]
     Active Substance: AZITHROMYCIN
     Dosage: 250 MILLIGRAM, QD
  386. AZITHROMYCIN [Suspect]
     Active Substance: AZITHROMYCIN
     Dosage: 250 MILLIGRAM, QD
  387. AZITHROMYCIN [Suspect]
     Active Substance: AZITHROMYCIN
  388. AZITHROMYCIN [Suspect]
     Active Substance: AZITHROMYCIN
  389. RUPATADINE [Suspect]
     Active Substance: RUPATADINE
     Indication: Product used for unknown indication
  390. RUPATADINE [Suspect]
     Active Substance: RUPATADINE
  391. RUPATADINE [Suspect]
     Active Substance: RUPATADINE
  392. RUPATADINE [Suspect]
     Active Substance: RUPATADINE
  393. SENNA [Suspect]
     Active Substance: SENNOSIDES
     Indication: Product used for unknown indication
  394. SENNA [Suspect]
     Active Substance: SENNOSIDES
  395. SENNA [Suspect]
     Active Substance: SENNOSIDES
  396. SENNA [Suspect]
     Active Substance: SENNOSIDES
  397. SENNOSIDES [Suspect]
     Active Substance: SENNOSIDES
     Indication: Product used for unknown indication
  398. SENNOSIDES [Suspect]
     Active Substance: SENNOSIDES
  399. SENNOSIDES [Suspect]
     Active Substance: SENNOSIDES
  400. SENNOSIDES [Suspect]
     Active Substance: SENNOSIDES
  401. SENNOSIDES [Suspect]
     Active Substance: SENNOSIDES
  402. SENNOSIDES [Suspect]
     Active Substance: SENNOSIDES
  403. SENNOSIDES [Suspect]
     Active Substance: SENNOSIDES
  404. SENNOSIDES [Suspect]
     Active Substance: SENNOSIDES
  405. SERTRALINE HYDROCHLORIDE [Suspect]
     Active Substance: SERTRALINE HYDROCHLORIDE
     Indication: Product used for unknown indication
     Route: 065
  406. SERTRALINE HYDROCHLORIDE [Suspect]
     Active Substance: SERTRALINE HYDROCHLORIDE
  407. SERTRALINE HYDROCHLORIDE [Suspect]
     Active Substance: SERTRALINE HYDROCHLORIDE
  408. SERTRALINE HYDROCHLORIDE [Suspect]
     Active Substance: SERTRALINE HYDROCHLORIDE
     Dosage: 2 DOSAGE FORM, QD
  409. SERTRALINE HYDROCHLORIDE [Suspect]
     Active Substance: SERTRALINE HYDROCHLORIDE
     Dosage: 1000 MILLIGRAM, QD
  410. SERTRALINE HYDROCHLORIDE [Suspect]
     Active Substance: SERTRALINE HYDROCHLORIDE
  411. SERTRALINE HYDROCHLORIDE [Suspect]
     Active Substance: SERTRALINE HYDROCHLORIDE
     Dosage: 1 DOSAGE FORM, QD
  412. SERTRALINE HYDROCHLORIDE [Suspect]
     Active Substance: SERTRALINE HYDROCHLORIDE
     Dosage: 4 DOSAGE FORM, BID
  413. SERTRALINE HYDROCHLORIDE [Suspect]
     Active Substance: SERTRALINE HYDROCHLORIDE
     Dosage: 4 DOSAGE FORM, QD
  414. SERTRALINE HYDROCHLORIDE [Suspect]
     Active Substance: SERTRALINE HYDROCHLORIDE
     Dosage: 500 MILLIGRAM, BID
  415. SERTRALINE HYDROCHLORIDE [Suspect]
     Active Substance: SERTRALINE HYDROCHLORIDE
     Dosage: 4 DOSAGE FORM, QD
  416. SERTRALINE HYDROCHLORIDE [Suspect]
     Active Substance: SERTRALINE HYDROCHLORIDE
     Dosage: 2 DOSAGE FORM, BID
  417. SERTRALINE HYDROCHLORIDE [Suspect]
     Active Substance: SERTRALINE HYDROCHLORIDE
  418. SERTRALINE HYDROCHLORIDE [Suspect]
     Active Substance: SERTRALINE HYDROCHLORIDE
  419. SERTRALINE HYDROCHLORIDE [Suspect]
     Active Substance: SERTRALINE HYDROCHLORIDE
  420. SERTRALINE HYDROCHLORIDE [Suspect]
     Active Substance: SERTRALINE HYDROCHLORIDE
  421. SERTRALINE HYDROCHLORIDE [Suspect]
     Active Substance: SERTRALINE HYDROCHLORIDE
  422. SPIRIVA [Suspect]
     Active Substance: TIOTROPIUM BROMIDE MONOHYDRATE
     Indication: Product used for unknown indication
     Dosage: 2 DOSAGE FORM, QD
  423. SPIRIVA [Suspect]
     Active Substance: TIOTROPIUM BROMIDE MONOHYDRATE
     Route: 065
  424. SPIRIVA [Suspect]
     Active Substance: TIOTROPIUM BROMIDE MONOHYDRATE
     Route: 065
  425. SPIRIVA [Suspect]
     Active Substance: TIOTROPIUM BROMIDE MONOHYDRATE
     Route: 065
  426. SPIRIVA [Suspect]
     Active Substance: TIOTROPIUM BROMIDE MONOHYDRATE
     Route: 065
  427. SPIRIVA [Suspect]
     Active Substance: TIOTROPIUM BROMIDE MONOHYDRATE
  428. SPIRIVA [Suspect]
     Active Substance: TIOTROPIUM BROMIDE MONOHYDRATE
  429. SPIRIVA [Suspect]
     Active Substance: TIOTROPIUM BROMIDE MONOHYDRATE
  430. SPIRIVA [Suspect]
     Active Substance: TIOTROPIUM BROMIDE MONOHYDRATE
  431. SULFAMETHOXAZOLE\TRIMETHOPRIM [Suspect]
     Active Substance: SULFAMETHOXAZOLE\TRIMETHOPRIM
     Indication: Product used for unknown indication
  432. SULFAMETHOXAZOLE\TRIMETHOPRIM [Suspect]
     Active Substance: SULFAMETHOXAZOLE\TRIMETHOPRIM
  433. SULFAMETHOXAZOLE\TRIMETHOPRIM [Suspect]
     Active Substance: SULFAMETHOXAZOLE\TRIMETHOPRIM
  434. SULFAMETHOXAZOLE\TRIMETHOPRIM [Suspect]
     Active Substance: SULFAMETHOXAZOLE\TRIMETHOPRIM
  435. SULFAMETHOXAZOLE\TRIMETHOPRIM [Suspect]
     Active Substance: SULFAMETHOXAZOLE\TRIMETHOPRIM
  436. TAMSULOSIN [Suspect]
     Active Substance: TAMSULOSIN
     Indication: Product used for unknown indication
     Dosage: 100 MILLIGRAM, Q12H
  437. TAMSULOSIN [Suspect]
     Active Substance: TAMSULOSIN
  438. TAMSULOSIN [Suspect]
     Active Substance: TAMSULOSIN
  439. TAMSULOSIN [Suspect]
     Active Substance: TAMSULOSIN
     Dosage: 1 MILLIGRAM, QD
  440. TAMSULOSIN [Suspect]
     Active Substance: TAMSULOSIN
  441. TAMSULOSIN [Suspect]
     Active Substance: TAMSULOSIN
     Dosage: 2 MILLIGRAM, QD
  442. TAMSULOSIN [Suspect]
     Active Substance: TAMSULOSIN
  443. TAMSULOSIN [Suspect]
     Active Substance: TAMSULOSIN
  444. TAMSULOSIN [Suspect]
     Active Substance: TAMSULOSIN
  445. TAMSULOSIN [Suspect]
     Active Substance: TAMSULOSIN
  446. TRELEGY ELLIPTA [Suspect]
     Active Substance: FLUTICASONE FUROATE\UMECLIDINIUM BROMIDE\VILANTEROL TRIFENATATE
     Indication: Product used for unknown indication
     Dosage: 1 DOSAGE FORM, QD
  447. TRELEGY ELLIPTA [Suspect]
     Active Substance: FLUTICASONE FUROATE\UMECLIDINIUM BROMIDE\VILANTEROL TRIFENATATE
  448. TRELEGY ELLIPTA [Suspect]
     Active Substance: FLUTICASONE FUROATE\UMECLIDINIUM BROMIDE\VILANTEROL TRIFENATATE
     Dosage: 1 DOSAGE FORM, QD
  449. TRELEGY ELLIPTA [Suspect]
     Active Substance: FLUTICASONE FUROATE\UMECLIDINIUM BROMIDE\VILANTEROL TRIFENATATE
  450. TRELEGY ELLIPTA [Suspect]
     Active Substance: FLUTICASONE FUROATE\UMECLIDINIUM BROMIDE\VILANTEROL TRIFENATATE
  451. TRELEGY ELLIPTA [Suspect]
     Active Substance: FLUTICASONE FUROATE\UMECLIDINIUM BROMIDE\VILANTEROL TRIFENATATE
  452. TRELEGY ELLIPTA [Suspect]
     Active Substance: FLUTICASONE FUROATE\UMECLIDINIUM BROMIDE\VILANTEROL TRIFENATATE
  453. TRELEGY ELLIPTA [Suspect]
     Active Substance: FLUTICASONE FUROATE\UMECLIDINIUM BROMIDE\VILANTEROL TRIFENATATE
  454. TRELEGY ELLIPTA [Suspect]
     Active Substance: FLUTICASONE FUROATE\UMECLIDINIUM BROMIDE\VILANTEROL TRIFENATATE
  455. TRELEGY ELLIPTA [Suspect]
     Active Substance: FLUTICASONE FUROATE\UMECLIDINIUM BROMIDE\VILANTEROL TRIFENATATE
     Dosage: 750 MILLIGRAM, QD
  456. TRELEGY ELLIPTA [Suspect]
     Active Substance: FLUTICASONE FUROATE\UMECLIDINIUM BROMIDE\VILANTEROL TRIFENATATE
  457. TRELEGY ELLIPTA [Suspect]
     Active Substance: FLUTICASONE FUROATE\UMECLIDINIUM BROMIDE\VILANTEROL TRIFENATATE
  458. TUMS [Suspect]
     Active Substance: CALCIUM CARBONATE
     Indication: Product used for unknown indication
     Dosage: 1 DOSAGE FORM, QD
  459. TUMS [Suspect]
     Active Substance: CALCIUM CARBONATE
     Dosage: 500 MILLIGRAM, QD
  460. TUMS [Suspect]
     Active Substance: CALCIUM CARBONATE
     Dosage: 2 DOSAGE FORM, QD
  461. TUMS [Suspect]
     Active Substance: CALCIUM CARBONATE
  462. TUMS [Suspect]
     Active Substance: CALCIUM CARBONATE
  463. TUMS [Suspect]
     Active Substance: CALCIUM CARBONATE
  464. TUMS [Suspect]
     Active Substance: CALCIUM CARBONATE
  465. TUMS [Suspect]
     Active Substance: CALCIUM CARBONATE
  466. TUMS [Suspect]
     Active Substance: CALCIUM CARBONATE
  467. TUMS [Suspect]
     Active Substance: CALCIUM CARBONATE
     Dosage: 1 DOSAGE FORM, QD
  468. TUMS [Suspect]
     Active Substance: CALCIUM CARBONATE
  469. TUMS [Suspect]
     Active Substance: CALCIUM CARBONATE
  470. TUMS [Suspect]
     Active Substance: CALCIUM CARBONATE
  471. TUMS [Suspect]
     Active Substance: CALCIUM CARBONATE
  472. TUMS [Suspect]
     Active Substance: CALCIUM CARBONATE
  473. TUMS [Suspect]
     Active Substance: CALCIUM CARBONATE
  474. UMECLIDINIUM BROMIDE [Suspect]
     Active Substance: UMECLIDINIUM BROMIDE
     Indication: Product used for unknown indication
  475. UMECLIDINIUM BROMIDE [Suspect]
     Active Substance: UMECLIDINIUM BROMIDE
     Dosage: 1 DOSAGE FORM, QD
  476. UMECLIDINIUM BROMIDE [Suspect]
     Active Substance: UMECLIDINIUM BROMIDE
  477. UMECLIDINIUM BROMIDE [Suspect]
     Active Substance: UMECLIDINIUM BROMIDE
  478. UMECLIDINIUM BROMIDE [Suspect]
     Active Substance: UMECLIDINIUM BROMIDE
  479. UMECLIDINIUM BROMIDE [Suspect]
     Active Substance: UMECLIDINIUM BROMIDE
  480. UMECLIDINIUM BROMIDE [Suspect]
     Active Substance: UMECLIDINIUM BROMIDE
  481. UMECLIDINIUM BROMIDE [Suspect]
     Active Substance: UMECLIDINIUM BROMIDE
  482. UMECLIDINIUM BROMIDE [Suspect]
     Active Substance: UMECLIDINIUM BROMIDE
  483. UMECLIDINIUM BROMIDE [Suspect]
     Active Substance: UMECLIDINIUM BROMIDE
  484. UMECLIDINIUM BROMIDE [Suspect]
     Active Substance: UMECLIDINIUM BROMIDE
  485. UMECLIDINIUM BROMIDE [Suspect]
     Active Substance: UMECLIDINIUM BROMIDE
  486. UMECLIDINIUM BROMIDE [Suspect]
     Active Substance: UMECLIDINIUM BROMIDE
  487. UMECLIDINIUM BROMIDE [Suspect]
     Active Substance: UMECLIDINIUM BROMIDE
  488. UMECLIDINIUM BROMIDE [Suspect]
     Active Substance: UMECLIDINIUM BROMIDE
  489. UMECLIDINIUM BROMIDE [Suspect]
     Active Substance: UMECLIDINIUM BROMIDE
  490. UMECLIDINIUM BROMIDE\VILANTEROL TRIFENATATE [Suspect]
     Active Substance: UMECLIDINIUM BROMIDE\VILANTEROL TRIFENATATE
     Indication: Product used for unknown indication
     Dosage: 1 DOSAGE FORM, QD
  491. UMECLIDINIUM BROMIDE\VILANTEROL TRIFENATATE [Suspect]
     Active Substance: UMECLIDINIUM BROMIDE\VILANTEROL TRIFENATATE
     Dosage: 1 DOSAGE FORM, QD
  492. UMECLIDINIUM BROMIDE\VILANTEROL TRIFENATATE [Suspect]
     Active Substance: UMECLIDINIUM BROMIDE\VILANTEROL TRIFENATATE
  493. UMECLIDINIUM BROMIDE\VILANTEROL TRIFENATATE [Suspect]
     Active Substance: UMECLIDINIUM BROMIDE\VILANTEROL TRIFENATATE
  494. UMECLIDINIUM BROMIDE\VILANTEROL TRIFENATATE [Suspect]
     Active Substance: UMECLIDINIUM BROMIDE\VILANTEROL TRIFENATATE
  495. UMECLIDINIUM BROMIDE\VILANTEROL TRIFENATATE [Suspect]
     Active Substance: UMECLIDINIUM BROMIDE\VILANTEROL TRIFENATATE
     Dosage: 1 DOSAGE FORM, QD
  496. UMECLIDINIUM BROMIDE\VILANTEROL TRIFENATATE [Suspect]
     Active Substance: UMECLIDINIUM BROMIDE\VILANTEROL TRIFENATATE
     Dosage: 1 DOSAGE FORM, QD
  497. UMECLIDINIUM BROMIDE\VILANTEROL TRIFENATATE [Suspect]
     Active Substance: UMECLIDINIUM BROMIDE\VILANTEROL TRIFENATATE
  498. UMECLIDINIUM BROMIDE\VILANTEROL TRIFENATATE [Suspect]
     Active Substance: UMECLIDINIUM BROMIDE\VILANTEROL TRIFENATATE
  499. UMECLIDINIUM BROMIDE\VILANTEROL TRIFENATATE [Suspect]
     Active Substance: UMECLIDINIUM BROMIDE\VILANTEROL TRIFENATATE
  500. VITAMIN D [Suspect]
     Active Substance: VITAMIN D NOS
     Indication: Product used for unknown indication
  501. VITAMIN D [Suspect]
     Active Substance: VITAMIN D NOS
  502. ZENHALE [Suspect]
     Active Substance: FORMOTEROL FUMARATE\MOMETASONE FUROATE
     Indication: Product used for unknown indication
  503. ZENHALE [Suspect]
     Active Substance: FORMOTEROL FUMARATE\MOMETASONE FUROATE
  504. ZENHALE [Suspect]
     Active Substance: FORMOTEROL FUMARATE\MOMETASONE FUROATE
  505. ZENHALE [Suspect]
     Active Substance: FORMOTEROL FUMARATE\MOMETASONE FUROATE
     Dosage: 750 MILLIGRAM, QD
  506. ZENHALE [Suspect]
     Active Substance: FORMOTEROL FUMARATE\MOMETASONE FUROATE
  507. LEVOTHYROXINE [Concomitant]
     Active Substance: LEVOTHYROXINE
     Indication: Product used for unknown indication
  508. ROSUVASTATIN [Concomitant]
     Active Substance: ROSUVASTATIN
     Indication: Product used for unknown indication
  509. ROSUVASTATIN [Concomitant]
     Active Substance: ROSUVASTATIN
  510. SULFADIAZINE\TRIMETHOPRIM [Concomitant]
     Active Substance: SULFADIAZINE\TRIMETHOPRIM
  511. SULFADIAZINE\TRIMETHOPRIM [Concomitant]
     Active Substance: SULFADIAZINE\TRIMETHOPRIM
  512. SULFADIAZINE\TRIMETHOPRIM [Concomitant]
     Active Substance: SULFADIAZINE\TRIMETHOPRIM
  513. SULFADIAZINE\TRIMETHOPRIM [Concomitant]
     Active Substance: SULFADIAZINE\TRIMETHOPRIM
  514. SULFADIAZINE\TRIMETHOPRIM [Concomitant]
     Active Substance: SULFADIAZINE\TRIMETHOPRIM
  515. SULFADIAZINE\TRIMETHOPRIM [Concomitant]
     Active Substance: SULFADIAZINE\TRIMETHOPRIM
  516. SULFADIAZINE\TRIMETHOPRIM [Concomitant]
     Active Substance: SULFADIAZINE\TRIMETHOPRIM
  517. SULFADIAZINE\TRIMETHOPRIM [Concomitant]
     Active Substance: SULFADIAZINE\TRIMETHOPRIM
  518. PIOGLITAZONE [Suspect]
     Active Substance: PIOGLITAZONE
     Indication: Product used for unknown indication
  519. CALCIUM CARBONATE [Suspect]
     Active Substance: CALCIUM CARBONATE
     Indication: Product used for unknown indication
  520. CALCIUM CARBONATE [Suspect]
     Active Substance: CALCIUM CARBONATE
  521. CALCIUM CARBONATE [Suspect]
     Active Substance: CALCIUM CARBONATE
     Dosage: 500 MILLIGRAM, QD
  522. CALCIUM CARBONATE [Suspect]
     Active Substance: CALCIUM CARBONATE
     Dosage: 1 MILLIGRAM, QD
  523. CALCIUM CARBONATE [Suspect]
     Active Substance: CALCIUM CARBONATE
     Dosage: 500 MILLIGRAM, QD
  524. CALCIUM CARBONATE [Suspect]
     Active Substance: CALCIUM CARBONATE
     Dosage: 1 MILLIGRAM, QD
  525. LEVOTHYROXINE [Suspect]
     Active Substance: LEVOTHYROXINE
     Indication: Product used for unknown indication
  526. SEPTRA [Suspect]
     Active Substance: SULFAMETHOXAZOLE\TRIMETHOPRIM
     Indication: Product used for unknown indication
  527. SEPTRA [Suspect]
     Active Substance: SULFAMETHOXAZOLE\TRIMETHOPRIM
  528. SEPTRA [Suspect]
     Active Substance: SULFAMETHOXAZOLE\TRIMETHOPRIM
  529. SEPTRA [Suspect]
     Active Substance: SULFAMETHOXAZOLE\TRIMETHOPRIM
  530. SEPTRA [Suspect]
     Active Substance: SULFAMETHOXAZOLE\TRIMETHOPRIM
  531. SEPTRA [Suspect]
     Active Substance: SULFAMETHOXAZOLE\TRIMETHOPRIM
  532. SEPTRA [Suspect]
     Active Substance: SULFAMETHOXAZOLE\TRIMETHOPRIM
     Dosage: 3 DOSAGE FORM, 1/WEEK
  533. SEPTRA [Suspect]
     Active Substance: SULFAMETHOXAZOLE\TRIMETHOPRIM
     Dosage: 3 DOSAGE FORM, 1/WEEK
  534. SEPTRA [Suspect]
     Active Substance: SULFAMETHOXAZOLE\TRIMETHOPRIM
  535. SEPTRA [Suspect]
     Active Substance: SULFAMETHOXAZOLE\TRIMETHOPRIM
  536. SEPTRA [Suspect]
     Active Substance: SULFAMETHOXAZOLE\TRIMETHOPRIM
  537. SEPTRA [Suspect]
     Active Substance: SULFAMETHOXAZOLE\TRIMETHOPRIM
  538. SEPTRA [Suspect]
     Active Substance: SULFAMETHOXAZOLE\TRIMETHOPRIM
  539. SEPTRA [Suspect]
     Active Substance: SULFAMETHOXAZOLE\TRIMETHOPRIM
  540. SEPTRA [Suspect]
     Active Substance: SULFAMETHOXAZOLE\TRIMETHOPRIM
  541. SEPTRA [Suspect]
     Active Substance: SULFAMETHOXAZOLE\TRIMETHOPRIM
  542. SEPTRA [Suspect]
     Active Substance: SULFAMETHOXAZOLE\TRIMETHOPRIM
  543. SEPTRA [Suspect]
     Active Substance: SULFAMETHOXAZOLE\TRIMETHOPRIM
  544. SEPTRA [Suspect]
     Active Substance: SULFAMETHOXAZOLE\TRIMETHOPRIM
  545. SEPTRA [Suspect]
     Active Substance: SULFAMETHOXAZOLE\TRIMETHOPRIM
  546. SEPTRA [Suspect]
     Active Substance: SULFAMETHOXAZOLE\TRIMETHOPRIM
  547. PREDNISONE [Suspect]
     Active Substance: PREDNISONE
     Indication: Product used for unknown indication
     Dosage: 50 MILLIGRAM, QD
     Route: 065
  548. PREDNISONE [Suspect]
     Active Substance: PREDNISONE
     Route: 065
  549. PREDNISONE [Suspect]
     Active Substance: PREDNISONE
     Dosage: 50 MILLIGRAM, QD
     Route: 065
  550. PREDNISONE [Suspect]
     Active Substance: PREDNISONE
     Dosage: 80 MILLIGRAM, QD
     Route: 065
  551. PREDNISONE [Suspect]
     Active Substance: PREDNISONE
     Route: 065
  552. PREDNISONE [Suspect]
     Active Substance: PREDNISONE
     Route: 065
  553. PREDNISONE [Suspect]
     Active Substance: PREDNISONE
     Route: 065
  554. PREDNISONE [Suspect]
     Active Substance: PREDNISONE
  555. PREDNISONE [Suspect]
     Active Substance: PREDNISONE
  556. FORMOTEROL FUMARATE [Suspect]
     Active Substance: FORMOTEROL FUMARATE
     Indication: Product used for unknown indication
  557. FORMOTEROL FUMARATE [Suspect]
     Active Substance: FORMOTEROL FUMARATE
  558. FORMOTEROL FUMARATE [Suspect]
     Active Substance: FORMOTEROL FUMARATE
  559. FLUTICASONE [Suspect]
     Active Substance: FLUTICASONE
  560. FLUTICASONE [Suspect]
     Active Substance: FLUTICASONE
  561. FLUTICASONE [Suspect]
     Active Substance: FLUTICASONE
  562. FLUTICASONE PROPIONATE\SALMETEROL XINAFOATE [Suspect]
     Active Substance: FLUTICASONE PROPIONATE\SALMETEROL XINAFOATE
     Indication: Product used for unknown indication
     Route: 065
  563. FLUTICASONE PROPIONATE\SALMETEROL XINAFOATE [Suspect]
     Active Substance: FLUTICASONE PROPIONATE\SALMETEROL XINAFOATE
  564. FLUTICASONE PROPIONATE\SALMETEROL XINAFOATE [Suspect]
     Active Substance: FLUTICASONE PROPIONATE\SALMETEROL XINAFOATE
  565. SYMBICORT [Suspect]
     Active Substance: BUDESONIDE\FORMOTEROL FUMARATE DIHYDRATE
     Route: 065
  566. AZATHIOPRINE SODIUM [Suspect]
     Active Substance: AZATHIOPRINE SODIUM
     Indication: Product used for unknown indication
     Dosage: 1 DOSAGE FORM, QD
  567. AZATHIOPRINE SODIUM [Suspect]
     Active Substance: AZATHIOPRINE SODIUM
     Dosage: 50 MILLIGRAM, QD
  568. AZATHIOPRINE SODIUM [Suspect]
     Active Substance: AZATHIOPRINE SODIUM
     Dosage: 100 MILLIGRAM, QD
  569. AZATHIOPRINE SODIUM [Suspect]
     Active Substance: AZATHIOPRINE SODIUM
  570. AZATHIOPRINE SODIUM [Suspect]
     Active Substance: AZATHIOPRINE SODIUM
     Dosage: 2 MILLIGRAM, QD
  571. AZATHIOPRINE SODIUM [Suspect]
     Active Substance: AZATHIOPRINE SODIUM
     Dosage: 1 MILLIGRAM, QD
  572. AZATHIOPRINE SODIUM [Suspect]
     Active Substance: AZATHIOPRINE SODIUM
     Dosage: 2 MILLIGRAM, QD
  573. AZATHIOPRINE SODIUM [Suspect]
     Active Substance: AZATHIOPRINE SODIUM
     Dosage: 100 MILLIGRAM, QD
  574. AZATHIOPRINE SODIUM [Suspect]
     Active Substance: AZATHIOPRINE SODIUM
     Dosage: 50 MILLIGRAM, QD
  575. AZATHIOPRINE SODIUM [Suspect]
     Active Substance: AZATHIOPRINE SODIUM
     Dosage: 1 DOSAGE FORM, QD
  576. AZATHIOPRINE SODIUM [Suspect]
     Active Substance: AZATHIOPRINE SODIUM
     Dosage: 250 MILLIGRAM, QD
  577. AZATHIOPRINE SODIUM [Suspect]
     Active Substance: AZATHIOPRINE SODIUM
  578. AZATHIOPRINE SODIUM [Suspect]
     Active Substance: AZATHIOPRINE SODIUM
  579. AZATHIOPRINE SODIUM [Suspect]
     Active Substance: AZATHIOPRINE SODIUM
  580. AZATHIOPRINE SODIUM [Suspect]
     Active Substance: AZATHIOPRINE SODIUM
     Dosage: 100 MILLIGRAM, QD
  581. AZATHIOPRINE SODIUM [Suspect]
     Active Substance: AZATHIOPRINE SODIUM
     Dosage: 2 DOSAGE FORM, QD
  582. AZATHIOPRINE SODIUM [Suspect]
     Active Substance: AZATHIOPRINE SODIUM
     Dosage: 100 MILLIGRAM, QD
  583. AZATHIOPRINE SODIUM [Suspect]
     Active Substance: AZATHIOPRINE SODIUM
  584. AZATHIOPRINE SODIUM [Suspect]
     Active Substance: AZATHIOPRINE SODIUM
  585. AZATHIOPRINE SODIUM [Suspect]
     Active Substance: AZATHIOPRINE SODIUM
  586. AZATHIOPRINE SODIUM [Suspect]
     Active Substance: AZATHIOPRINE SODIUM
     Dosage: 1 DOSAGE FORM, QD
  587. AZATHIOPRINE SODIUM [Suspect]
     Active Substance: AZATHIOPRINE SODIUM
  588. AZATHIOPRINE SODIUM [Suspect]
     Active Substance: AZATHIOPRINE SODIUM
  589. AZATHIOPRINE SODIUM [Suspect]
     Active Substance: AZATHIOPRINE SODIUM
  590. AZATHIOPRINE SODIUM [Suspect]
     Active Substance: AZATHIOPRINE SODIUM
  591. AZATHIOPRINE SODIUM [Suspect]
     Active Substance: AZATHIOPRINE SODIUM
  592. AZATHIOPRINE SODIUM [Suspect]
     Active Substance: AZATHIOPRINE SODIUM
  593. CEFUROXIME AXETIL [Suspect]
     Active Substance: CEFUROXIME AXETIL
     Indication: Product used for unknown indication
  594. CEFUROXIME AXETIL [Suspect]
     Active Substance: CEFUROXIME AXETIL
  595. CEFUROXIME AXETIL [Suspect]
     Active Substance: CEFUROXIME AXETIL
  596. CEFUROXIME AXETIL [Suspect]
     Active Substance: CEFUROXIME AXETIL
  597. CEFUROXIME AXETIL [Suspect]
     Active Substance: CEFUROXIME AXETIL
  598. CEFUROXIME AXETIL [Suspect]
     Active Substance: CEFUROXIME AXETIL
     Dosage: 500 MILLIGRAM, QD
  599. CEFUROXIME AXETIL [Suspect]
     Active Substance: CEFUROXIME AXETIL
  600. CEFUROXIME AXETIL [Suspect]
     Active Substance: CEFUROXIME AXETIL
  601. CEFUROXIME AXETIL [Suspect]
     Active Substance: CEFUROXIME AXETIL
  602. CEFUROXIME AXETIL [Suspect]
     Active Substance: CEFUROXIME AXETIL
  603. CEFUROXIME AXETIL [Suspect]
     Active Substance: CEFUROXIME AXETIL
  604. CEFUROXIME AXETIL [Suspect]
     Active Substance: CEFUROXIME AXETIL
     Dosage: 1 MILLIGRAM, QD
  605. CEFUROXIME AXETIL [Suspect]
     Active Substance: CEFUROXIME AXETIL
     Dosage: 1000 MILLIGRAM, BID
  606. CEFUROXIME AXETIL [Suspect]
     Active Substance: CEFUROXIME AXETIL
  607. CEFUROXIME AXETIL [Suspect]
     Active Substance: CEFUROXIME AXETIL
  608. CEFUROXIME AXETIL [Suspect]
     Active Substance: CEFUROXIME AXETIL
  609. CEFUROXIME AXETIL [Suspect]
     Active Substance: CEFUROXIME AXETIL
  610. CEFUROXIME AXETIL [Suspect]
     Active Substance: CEFUROXIME AXETIL
  611. CEFUROXIME AXETIL [Suspect]
     Active Substance: CEFUROXIME AXETIL
  612. CEFUROXIME AXETIL [Suspect]
     Active Substance: CEFUROXIME AXETIL
     Dosage: 500 MILLIGRAM, QD
  613. CEFUROXIME AXETIL [Suspect]
     Active Substance: CEFUROXIME AXETIL
     Dosage: 500 MILLIGRAM, Q12H
  614. CEFUROXIME AXETIL [Suspect]
     Active Substance: CEFUROXIME AXETIL
  615. CEFUROXIME AXETIL [Suspect]
     Active Substance: CEFUROXIME AXETIL
     Dosage: 500 MILLIGRAM, QD
  616. CEFUROXIME AXETIL [Suspect]
     Active Substance: CEFUROXIME AXETIL
     Dosage: 500 MILLIGRAM, Q12H
  617. CEFUROXIME AXETIL [Suspect]
     Active Substance: CEFUROXIME AXETIL
     Dosage: 1 DOSAGE FORM, QD
  618. CEFUROXIME AXETIL [Suspect]
     Active Substance: CEFUROXIME AXETIL
  619. CEFUROXIME AXETIL [Suspect]
     Active Substance: CEFUROXIME AXETIL
  620. CEFUROXIME AXETIL [Suspect]
     Active Substance: CEFUROXIME AXETIL
  621. CEFUROXIME AXETIL [Suspect]
     Active Substance: CEFUROXIME AXETIL
     Dosage: 2 DOSAGE FORM, Q12H
  622. CEFUROXIME AXETIL [Suspect]
     Active Substance: CEFUROXIME AXETIL
  623. CEFUROXIME AXETIL [Suspect]
     Active Substance: CEFUROXIME AXETIL
  624. CEFUROXIME AXETIL [Suspect]
     Active Substance: CEFUROXIME AXETIL
  625. CEFUROXIME AXETIL [Suspect]
     Active Substance: CEFUROXIME AXETIL
  626. CEFUROXIME AXETIL [Suspect]
     Active Substance: CEFUROXIME AXETIL
  627. CEFUROXIME AXETIL [Suspect]
     Active Substance: CEFUROXIME AXETIL
  628. CEFUROXIME AXETIL [Suspect]
     Active Substance: CEFUROXIME AXETIL
  629. CEFUROXIME AXETIL [Suspect]
     Active Substance: CEFUROXIME AXETIL
  630. CEFUROXIME AXETIL [Suspect]
     Active Substance: CEFUROXIME AXETIL
  631. CEFUROXIME AXETIL [Suspect]
     Active Substance: CEFUROXIME AXETIL
  632. CEFUROXIME AXETIL [Suspect]
     Active Substance: CEFUROXIME AXETIL
  633. CEFUROXIME AXETIL [Suspect]
     Active Substance: CEFUROXIME AXETIL
  634. DOXAZOSIN MESYLATE [Suspect]
     Active Substance: DOXAZOSIN MESYLATE
     Indication: Product used for unknown indication
     Dosage: 750 MILLIGRAM, QD
  635. DOXAZOSIN MESYLATE [Suspect]
     Active Substance: DOXAZOSIN MESYLATE
     Dosage: 750 MILLIGRAM, QD
  636. FORMOTEROL FUMARATE [Suspect]
     Active Substance: FORMOTEROL FUMARATE
  637. FORMOTEROL FUMARATE [Suspect]
     Active Substance: FORMOTEROL FUMARATE
  638. GLUCAGON HYDROCHLORIDE [Suspect]
     Active Substance: GLUCAGON HYDROCHLORIDE
     Indication: Product used for unknown indication
  639. GLUCAGON HYDROCHLORIDE [Suspect]
     Active Substance: GLUCAGON HYDROCHLORIDE
     Dosage: 1 MILLIGRAM, QD
  640. GLUCAGON HYDROCHLORIDE [Suspect]
     Active Substance: GLUCAGON HYDROCHLORIDE
  641. GLUCAGON HYDROCHLORIDE [Suspect]
     Active Substance: GLUCAGON HYDROCHLORIDE
     Dosage: 1 MILLIGRAM, QD
  642. GLUCAGON HYDROCHLORIDE [Suspect]
     Active Substance: GLUCAGON HYDROCHLORIDE
     Dosage: 1 MILLIGRAM, QD
  643. GLUCAGON HYDROCHLORIDE [Suspect]
     Active Substance: GLUCAGON HYDROCHLORIDE
  644. GLUCAGON HYDROCHLORIDE [Suspect]
     Active Substance: GLUCAGON HYDROCHLORIDE
  645. GLUCAGON HYDROCHLORIDE [Suspect]
     Active Substance: GLUCAGON HYDROCHLORIDE
  646. GLUCAGON HYDROCHLORIDE [Suspect]
     Active Substance: GLUCAGON HYDROCHLORIDE
  647. GLUCAGON HYDROCHLORIDE [Suspect]
     Active Substance: GLUCAGON HYDROCHLORIDE
  648. GLUCAGON HYDROCHLORIDE [Suspect]
     Active Substance: GLUCAGON HYDROCHLORIDE
  649. GLUCAGON HYDROCHLORIDE [Suspect]
     Active Substance: GLUCAGON HYDROCHLORIDE
  650. GLUCAGON HYDROCHLORIDE [Suspect]
     Active Substance: GLUCAGON HYDROCHLORIDE
  651. MOXIFLOXACIN HYDROCHLORIDE [Suspect]
     Active Substance: MOXIFLOXACIN HYDROCHLORIDE
     Indication: Product used for unknown indication
  652. MOXIFLOXACIN HYDROCHLORIDE [Suspect]
     Active Substance: MOXIFLOXACIN HYDROCHLORIDE
     Dosage: 750 MILLIGRAM, QD
  653. MOXIFLOXACIN HYDROCHLORIDE [Suspect]
     Active Substance: MOXIFLOXACIN HYDROCHLORIDE
  654. AZITHROMYCIN DIHYDRATE [Suspect]
     Active Substance: AZITHROMYCIN DIHYDRATE
     Indication: Product used for unknown indication
  655. AZITHROMYCIN DIHYDRATE [Suspect]
     Active Substance: AZITHROMYCIN DIHYDRATE
  656. AZITHROMYCIN DIHYDRATE [Suspect]
     Active Substance: AZITHROMYCIN DIHYDRATE
  657. AZITHROMYCIN DIHYDRATE [Suspect]
     Active Substance: AZITHROMYCIN DIHYDRATE
  658. AZITHROMYCIN DIHYDRATE [Suspect]
     Active Substance: AZITHROMYCIN DIHYDRATE
     Dosage: 250 MILLIGRAM, QD
  659. AZITHROMYCIN DIHYDRATE [Suspect]
     Active Substance: AZITHROMYCIN DIHYDRATE
     Dosage: 250 MILLIGRAM, QD
  660. AZITHROMYCIN DIHYDRATE [Suspect]
     Active Substance: AZITHROMYCIN DIHYDRATE
  661. AZITHROMYCIN DIHYDRATE [Suspect]
     Active Substance: AZITHROMYCIN DIHYDRATE
  662. AZITHROMYCIN DIHYDRATE [Suspect]
     Active Substance: AZITHROMYCIN DIHYDRATE
  663. AZITHROMYCIN DIHYDRATE [Suspect]
     Active Substance: AZITHROMYCIN DIHYDRATE
     Dosage: 2 DOSAGE FORM, QD
  664. AZITHROMYCIN DIHYDRATE [Suspect]
     Active Substance: AZITHROMYCIN DIHYDRATE
  665. AZITHROMYCIN DIHYDRATE [Suspect]
     Active Substance: AZITHROMYCIN DIHYDRATE
  666. AZITHROMYCIN DIHYDRATE [Suspect]
     Active Substance: AZITHROMYCIN DIHYDRATE
  667. AZITHROMYCIN DIHYDRATE [Suspect]
     Active Substance: AZITHROMYCIN DIHYDRATE
     Dosage: 2 DOSAGE FORM, QD
  668. AZITHROMYCIN DIHYDRATE [Suspect]
     Active Substance: AZITHROMYCIN DIHYDRATE
     Dosage: 1 DOSAGE FORM, QD
  669. AZITHROMYCIN DIHYDRATE [Suspect]
     Active Substance: AZITHROMYCIN DIHYDRATE
  670. AZITHROMYCIN DIHYDRATE [Suspect]
     Active Substance: AZITHROMYCIN DIHYDRATE
  671. AZITHROMYCIN DIHYDRATE [Suspect]
     Active Substance: AZITHROMYCIN DIHYDRATE
     Dosage: 1 DOSAGE FORM, Q12H
  672. AZITHROMYCIN DIHYDRATE [Suspect]
     Active Substance: AZITHROMYCIN DIHYDRATE
     Dosage: 2 DOSAGE FORM, QD
  673. AZITHROMYCIN DIHYDRATE [Suspect]
     Active Substance: AZITHROMYCIN DIHYDRATE
  674. AZITHROMYCIN DIHYDRATE [Suspect]
     Active Substance: AZITHROMYCIN DIHYDRATE
  675. AZITHROMYCIN DIHYDRATE [Suspect]
     Active Substance: AZITHROMYCIN DIHYDRATE
  676. AZITHROMYCIN DIHYDRATE [Suspect]
     Active Substance: AZITHROMYCIN DIHYDRATE
  677. AZITHROMYCIN DIHYDRATE [Suspect]
     Active Substance: AZITHROMYCIN DIHYDRATE
  678. AZITHROMYCIN DIHYDRATE [Suspect]
     Active Substance: AZITHROMYCIN DIHYDRATE
  679. AZITHROMYCIN DIHYDRATE [Suspect]
     Active Substance: AZITHROMYCIN DIHYDRATE
  680. AZITHROMYCIN DIHYDRATE [Suspect]
     Active Substance: AZITHROMYCIN DIHYDRATE
  681. AZITHROMYCIN DIHYDRATE [Suspect]
     Active Substance: AZITHROMYCIN DIHYDRATE
  682. AZITHROMYCIN DIHYDRATE [Suspect]
     Active Substance: AZITHROMYCIN DIHYDRATE
  683. AZITHROMYCIN DIHYDRATE [Suspect]
     Active Substance: AZITHROMYCIN DIHYDRATE
  684. AZITHROMYCIN DIHYDRATE [Suspect]
     Active Substance: AZITHROMYCIN DIHYDRATE
  685. AZITHROMYCIN DIHYDRATE [Suspect]
     Active Substance: AZITHROMYCIN DIHYDRATE
  686. AZITHROMYCIN DIHYDRATE [Suspect]
     Active Substance: AZITHROMYCIN DIHYDRATE
  687. AZITHROMYCIN DIHYDRATE [Suspect]
     Active Substance: AZITHROMYCIN DIHYDRATE
  688. AZITHROMYCIN DIHYDRATE [Suspect]
     Active Substance: AZITHROMYCIN DIHYDRATE
  689. HERBALS\SENNOSIDES [Suspect]
     Active Substance: HERBALS\SENNOSIDES
     Indication: Product used for unknown indication
  690. HERBALS\SENNOSIDES [Suspect]
     Active Substance: HERBALS\SENNOSIDES
  691. HERBALS\SENNOSIDES [Suspect]
     Active Substance: HERBALS\SENNOSIDES
  692. HERBALS\SENNOSIDES [Suspect]
     Active Substance: HERBALS\SENNOSIDES
  693. HERBALS\SENNOSIDES [Suspect]
     Active Substance: HERBALS\SENNOSIDES
  694. HERBALS\SENNOSIDES [Suspect]
     Active Substance: HERBALS\SENNOSIDES
  695. HERBALS\SENNOSIDES [Suspect]
     Active Substance: HERBALS\SENNOSIDES
  696. HERBALS\SENNOSIDES [Suspect]
     Active Substance: HERBALS\SENNOSIDES
  697. HERBALS\SENNOSIDES [Suspect]
     Active Substance: HERBALS\SENNOSIDES
  698. HERBALS\SENNOSIDES [Suspect]
     Active Substance: HERBALS\SENNOSIDES
  699. TAMSULOSIN HYDROCHLORIDE [Suspect]
     Active Substance: TAMSULOSIN HYDROCHLORIDE
     Indication: Product used for unknown indication
     Dosage: 100 MILLIGRAM, Q12H
  700. TAMSULOSIN HYDROCHLORIDE [Suspect]
     Active Substance: TAMSULOSIN HYDROCHLORIDE
  701. TAMSULOSIN HYDROCHLORIDE [Suspect]
     Active Substance: TAMSULOSIN HYDROCHLORIDE
  702. TAMSULOSIN HYDROCHLORIDE [Suspect]
     Active Substance: TAMSULOSIN HYDROCHLORIDE
     Dosage: 1 MILLIGRAM, QD
  703. TAMSULOSIN HYDROCHLORIDE [Suspect]
     Active Substance: TAMSULOSIN HYDROCHLORIDE
  704. TAMSULOSIN HYDROCHLORIDE [Suspect]
     Active Substance: TAMSULOSIN HYDROCHLORIDE
     Dosage: 2 MILLIGRAM, QD
  705. TAMSULOSIN HYDROCHLORIDE [Suspect]
     Active Substance: TAMSULOSIN HYDROCHLORIDE
  706. TAMSULOSIN HYDROCHLORIDE [Suspect]
     Active Substance: TAMSULOSIN HYDROCHLORIDE
     Dosage: 1 DOSAGE FORM, QD
  707. TAMSULOSIN HYDROCHLORIDE [Suspect]
     Active Substance: TAMSULOSIN HYDROCHLORIDE
     Dosage: 1 DOSAGE FORM, QD
  708. TAMSULOSIN HYDROCHLORIDE [Suspect]
     Active Substance: TAMSULOSIN HYDROCHLORIDE
  709. TAMSULOSIN HYDROCHLORIDE [Suspect]
     Active Substance: TAMSULOSIN HYDROCHLORIDE
  710. TAMSULOSIN HYDROCHLORIDE [Suspect]
     Active Substance: TAMSULOSIN HYDROCHLORIDE
  711. TAMSULOSIN HYDROCHLORIDE [Suspect]
     Active Substance: TAMSULOSIN HYDROCHLORIDE
  712. TAMSULOSIN HYDROCHLORIDE [Suspect]
     Active Substance: TAMSULOSIN HYDROCHLORIDE
  713. TAMSULOSIN HYDROCHLORIDE [Suspect]
     Active Substance: TAMSULOSIN HYDROCHLORIDE
  714. TAMSULOSIN HYDROCHLORIDE [Suspect]
     Active Substance: TAMSULOSIN HYDROCHLORIDE
  715. INSULIN ASPART [Suspect]
     Active Substance: INSULIN ASPART
     Indication: Product used for unknown indication
  716. INSULIN ASPART [Suspect]
     Active Substance: INSULIN ASPART
  717. INSULIN ASPART [Suspect]
     Active Substance: INSULIN ASPART
  718. INSULIN ASPART [Suspect]
     Active Substance: INSULIN ASPART
  719. INSULIN ASPART [Suspect]
     Active Substance: INSULIN ASPART
  720. INSULIN ASPART [Suspect]
     Active Substance: INSULIN ASPART
  721. INSULIN ASPART [Suspect]
     Active Substance: INSULIN ASPART
  722. INSULIN ASPART [Suspect]
     Active Substance: INSULIN ASPART
  723. INSULIN ASPART [Suspect]
     Active Substance: INSULIN ASPART
  724. INSULIN ASPART [Suspect]
     Active Substance: INSULIN ASPART
  725. ALBUTEROL [Suspect]
     Active Substance: ALBUTEROL
     Indication: Product used for unknown indication
  726. ALBUTEROL [Suspect]
     Active Substance: ALBUTEROL
  727. ALBUTEROL [Suspect]
     Active Substance: ALBUTEROL
     Dosage: 1 MICROGRAM, QD
  728. ALBUTEROL [Suspect]
     Active Substance: ALBUTEROL
  729. CHOLECALCIFEROL [Suspect]
     Active Substance: CHOLECALCIFEROL
     Indication: Product used for unknown indication
  730. CHOLECALCIFEROL [Suspect]
     Active Substance: CHOLECALCIFEROL
  731. CHOLECALCIFEROL [Suspect]
     Active Substance: CHOLECALCIFEROL
  732. CHOLECALCIFEROL [Suspect]
     Active Substance: CHOLECALCIFEROL
  733. CALCIUM SENNOSIDES [Suspect]
     Active Substance: SENNOSIDES
     Indication: Product used for unknown indication
  734. CALCIUM SENNOSIDES [Suspect]
     Active Substance: SENNOSIDES
  735. ALBUTEROL [Suspect]
     Active Substance: ALBUTEROL
  736. ALBUTEROL [Suspect]
     Active Substance: ALBUTEROL
  737. BENFOTIAMINE [Suspect]
     Active Substance: BENFOTIAMINE
     Indication: Product used for unknown indication
  738. BENFOTIAMINE [Suspect]
     Active Substance: BENFOTIAMINE
  739. DIETARY SUPPLEMENT\MINERALS\VITAMINS [Suspect]
     Active Substance: DIETARY SUPPLEMENT\MINERALS\VITAMINS
     Indication: Product used for unknown indication
  740. DIETARY SUPPLEMENT\MINERALS\VITAMINS [Suspect]
     Active Substance: DIETARY SUPPLEMENT\MINERALS\VITAMINS
  741. DIETARY SUPPLEMENT\MINERALS\VITAMINS [Suspect]
     Active Substance: DIETARY SUPPLEMENT\MINERALS\VITAMINS
  742. DIETARY SUPPLEMENT\MINERALS\VITAMINS [Suspect]
     Active Substance: DIETARY SUPPLEMENT\MINERALS\VITAMINS
  743. CEFUROXIME SODIUM [Suspect]
     Active Substance: CEFUROXIME SODIUM
     Indication: Product used for unknown indication
     Dosage: 2 DOSAGE FORM, Q12H
  744. CEFUROXIME SODIUM [Suspect]
     Active Substance: CEFUROXIME SODIUM
     Dosage: 1 DOSAGE FORM, QD
  745. CEFUROXIME SODIUM [Suspect]
     Active Substance: CEFUROXIME SODIUM
     Dosage: 500 MILLIGRAM, BID
  746. CEFUROXIME SODIUM [Suspect]
     Active Substance: CEFUROXIME SODIUM
  747. CEFUROXIME SODIUM [Suspect]
     Active Substance: CEFUROXIME SODIUM
     Dosage: 1 DOSAGE FORM, QD
  748. CEFUROXIME SODIUM [Suspect]
     Active Substance: CEFUROXIME SODIUM
  749. CEFUROXIME SODIUM [Suspect]
     Active Substance: CEFUROXIME SODIUM
  750. CEFUROXIME SODIUM [Suspect]
     Active Substance: CEFUROXIME SODIUM
  751. CEFUROXIME SODIUM [Suspect]
     Active Substance: CEFUROXIME SODIUM
  752. CEFUROXIME SODIUM [Suspect]
     Active Substance: CEFUROXIME SODIUM
  753. CEFUROXIME SODIUM [Suspect]
     Active Substance: CEFUROXIME SODIUM
     Dosage: 2 DOSAGE FORM, QD
  754. CEFUROXIME SODIUM [Suspect]
     Active Substance: CEFUROXIME SODIUM
     Dosage: 2 DOSAGE FORM, QD
  755. CEFUROXIME SODIUM [Suspect]
     Active Substance: CEFUROXIME SODIUM
     Dosage: 1 DOSAGE FORM, QD
  756. CEFUROXIME SODIUM [Suspect]
     Active Substance: CEFUROXIME SODIUM
  757. CEFUROXIME SODIUM [Suspect]
     Active Substance: CEFUROXIME SODIUM
     Dosage: 1 DOSAGE FORM, Q12H
  758. CEFUROXIME SODIUM [Suspect]
     Active Substance: CEFUROXIME SODIUM
     Dosage: 2 DOSAGE FORM, QD
  759. CEFUROXIME SODIUM [Suspect]
     Active Substance: CEFUROXIME SODIUM
     Dosage: 1 DOSAGE FORM, QD
  760. CEFUROXIME SODIUM [Suspect]
     Active Substance: CEFUROXIME SODIUM
     Dosage: 500 MILLIGRAM, BID
  761. CEFUROXIME SODIUM [Suspect]
     Active Substance: CEFUROXIME SODIUM
     Dosage: 100 MILLIGRAM, BID
  762. CEFUROXIME SODIUM [Suspect]
     Active Substance: CEFUROXIME SODIUM
     Dosage: 4 DOSAGE FORM, QD
  763. CEFUROXIME SODIUM [Suspect]
     Active Substance: CEFUROXIME SODIUM
  764. CEFUROXIME SODIUM [Suspect]
     Active Substance: CEFUROXIME SODIUM
     Dosage: 1 DOSAGE FORM, QD
  765. CEFUROXIME SODIUM [Suspect]
     Active Substance: CEFUROXIME SODIUM
  766. CEFUROXIME SODIUM [Suspect]
     Active Substance: CEFUROXIME SODIUM
  767. CEFUROXIME SODIUM [Suspect]
     Active Substance: CEFUROXIME SODIUM
  768. CEFUROXIME SODIUM [Suspect]
     Active Substance: CEFUROXIME SODIUM
     Dosage: 2 DOSAGE FORM, Q12H
  769. CEFUROXIME SODIUM [Suspect]
     Active Substance: CEFUROXIME SODIUM
  770. CEFUROXIME SODIUM [Suspect]
     Active Substance: CEFUROXIME SODIUM
  771. CEFUROXIME SODIUM [Suspect]
     Active Substance: CEFUROXIME SODIUM
  772. CEFUROXIME SODIUM [Suspect]
     Active Substance: CEFUROXIME SODIUM
  773. CEFUROXIME SODIUM [Suspect]
     Active Substance: CEFUROXIME SODIUM
  774. CEFUROXIME SODIUM [Suspect]
     Active Substance: CEFUROXIME SODIUM
  775. CEFUROXIME SODIUM [Suspect]
     Active Substance: CEFUROXIME SODIUM
  776. CEFUROXIME SODIUM [Suspect]
     Active Substance: CEFUROXIME SODIUM
  777. CEFUROXIME SODIUM [Suspect]
     Active Substance: CEFUROXIME SODIUM
  778. CEFUROXIME SODIUM [Suspect]
     Active Substance: CEFUROXIME SODIUM
  779. CEFUROXIME SODIUM [Suspect]
     Active Substance: CEFUROXIME SODIUM
  780. CEFUROXIME SODIUM [Suspect]
     Active Substance: CEFUROXIME SODIUM
  781. CEFUROXIME SODIUM [Suspect]
     Active Substance: CEFUROXIME SODIUM
  782. CEFUROXIME SODIUM [Suspect]
     Active Substance: CEFUROXIME SODIUM
  783. TIAZAC [Suspect]
     Active Substance: DILTIAZEM HYDROCHLORIDE
     Indication: Product used for unknown indication
  784. TIAZAC [Suspect]
     Active Substance: DILTIAZEM HYDROCHLORIDE
  785. ESCITALOPRAM OXALATE [Suspect]
     Active Substance: ESCITALOPRAM OXALATE
     Indication: Product used for unknown indication
     Dosage: 750 MILLIGRAM, QD
  786. FINASTERIDE [Suspect]
     Active Substance: FINASTERIDE
     Indication: Product used for unknown indication
  787. FINASTERIDE [Suspect]
     Active Substance: FINASTERIDE
  788. FLOMAX [Suspect]
     Active Substance: TAMSULOSIN HYDROCHLORIDE
     Indication: Product used for unknown indication
  789. FLOMAX [Suspect]
     Active Substance: TAMSULOSIN HYDROCHLORIDE
  790. FLOMAX [Suspect]
     Active Substance: TAMSULOSIN HYDROCHLORIDE
     Dosage: 1 DOSAGE FORM, 1/WEEK
  791. FLOMAX [Suspect]
     Active Substance: TAMSULOSIN HYDROCHLORIDE
  792. FLOMAX [Suspect]
     Active Substance: TAMSULOSIN HYDROCHLORIDE
     Dosage: 1 DOSAGE FORM, QD
  793. FLOMAX [Suspect]
     Active Substance: TAMSULOSIN HYDROCHLORIDE
  794. FLOMAX [Suspect]
     Active Substance: TAMSULOSIN HYDROCHLORIDE
  795. FLOMAX [Suspect]
     Active Substance: TAMSULOSIN HYDROCHLORIDE
     Dosage: 1 DOSAGE FORM, QD
  796. FLOMAX [Suspect]
     Active Substance: TAMSULOSIN HYDROCHLORIDE
  797. FLOMAX [Suspect]
     Active Substance: TAMSULOSIN HYDROCHLORIDE
     Dosage: 100 MILLIGRAM, QD
  798. FLOMAX [Suspect]
     Active Substance: TAMSULOSIN HYDROCHLORIDE
  799. FLOMAX [Suspect]
     Active Substance: TAMSULOSIN HYDROCHLORIDE
  800. FLOMAX [Suspect]
     Active Substance: TAMSULOSIN HYDROCHLORIDE
  801. FLOMAX [Suspect]
     Active Substance: TAMSULOSIN HYDROCHLORIDE
  802. FLOMAX [Suspect]
     Active Substance: TAMSULOSIN HYDROCHLORIDE
  803. FLOMAX [Suspect]
     Active Substance: TAMSULOSIN HYDROCHLORIDE
  804. FLOMAX [Suspect]
     Active Substance: TAMSULOSIN HYDROCHLORIDE
  805. FLOMAX [Suspect]
     Active Substance: TAMSULOSIN HYDROCHLORIDE
  806. PENICILLIN G SODIUM [Suspect]
     Active Substance: PENICILLIN G SODIUM
     Indication: Product used for unknown indication
  807. PENICILLIN G SODIUM [Suspect]
     Active Substance: PENICILLIN G SODIUM
  808. PENICILLIN V POTASSIUM [Concomitant]
     Active Substance: PENICILLIN V POTASSIUM
     Indication: Product used for unknown indication
  809. PENICILLIN V POTASSIUM [Concomitant]
     Active Substance: PENICILLIN V POTASSIUM
  810. PENICILLIN V POTASSIUM [Concomitant]
     Active Substance: PENICILLIN V POTASSIUM
  811. PENICILLIN V POTASSIUM [Concomitant]
     Active Substance: PENICILLIN V POTASSIUM
  812. PENICILLIN V [Concomitant]
     Active Substance: PENICILLIN V
  813. PENICILLIN V [Concomitant]
     Active Substance: PENICILLIN V
  814. PENICILLIN V [Concomitant]
     Active Substance: PENICILLIN V
  815. PENICILLIN V [Concomitant]
     Active Substance: PENICILLIN V
  816. ROSUVASTATIN CALCIUM [Concomitant]
     Active Substance: ROSUVASTATIN CALCIUM
     Indication: Product used for unknown indication
  817. ROSUVASTATIN CALCIUM [Concomitant]
     Active Substance: ROSUVASTATIN CALCIUM
  818. PANTOPRAZOLE SODIUM [Suspect]
     Active Substance: PANTOPRAZOLE SODIUM
     Indication: Product used for unknown indication
  819. PANTOPRAZOLE SODIUM [Suspect]
     Active Substance: PANTOPRAZOLE SODIUM
     Dosage: 40 MILLIGRAM, Q12H
  820. PANTOPRAZOLE SODIUM [Suspect]
     Active Substance: PANTOPRAZOLE SODIUM
     Dosage: 2 DOSAGE FORM, QD
  821. PANTOPRAZOLE SODIUM [Suspect]
     Active Substance: PANTOPRAZOLE SODIUM
  822. PANTOPRAZOLE SODIUM [Suspect]
     Active Substance: PANTOPRAZOLE SODIUM
  823. PANTOPRAZOLE SODIUM [Suspect]
     Active Substance: PANTOPRAZOLE SODIUM
     Dosage: 1 DOSAGE FORM, Q12H
  824. PANTOPRAZOLE SODIUM [Suspect]
     Active Substance: PANTOPRAZOLE SODIUM
     Dosage: 2 DOSAGE FORM, Q12H
  825. PANTOPRAZOLE SODIUM [Suspect]
     Active Substance: PANTOPRAZOLE SODIUM
  826. PANTOPRAZOLE SODIUM [Suspect]
     Active Substance: PANTOPRAZOLE SODIUM
  827. PANTOPRAZOLE SODIUM [Suspect]
     Active Substance: PANTOPRAZOLE SODIUM
     Dosage: 4 DOSAGE FORM, QD
  828. PANTOPRAZOLE SODIUM [Suspect]
     Active Substance: PANTOPRAZOLE SODIUM
     Dosage: 1 DOSAGE FORM, Q12H
  829. PANTOPRAZOLE SODIUM [Suspect]
     Active Substance: PANTOPRAZOLE SODIUM
  830. PANTOPRAZOLE SODIUM [Suspect]
     Active Substance: PANTOPRAZOLE SODIUM
     Dosage: 80 MICROGRAM, QD
  831. PANTOPRAZOLE SODIUM [Suspect]
     Active Substance: PANTOPRAZOLE SODIUM
     Dosage: 1 DOSAGE FORM, Q12H
  832. PANTOPRAZOLE SODIUM [Suspect]
     Active Substance: PANTOPRAZOLE SODIUM
  833. PANTOPRAZOLE SODIUM [Suspect]
     Active Substance: PANTOPRAZOLE SODIUM
  834. PANTOPRAZOLE SODIUM [Suspect]
     Active Substance: PANTOPRAZOLE SODIUM
     Dosage: 40 MICROGRAM, Q12H
  835. PANTOPRAZOLE SODIUM [Suspect]
     Active Substance: PANTOPRAZOLE SODIUM
  836. PANTOPRAZOLE SODIUM [Suspect]
     Active Substance: PANTOPRAZOLE SODIUM
     Dosage: 2 DOSAGE FORM, Q12H
  837. PANTOPRAZOLE SODIUM [Suspect]
     Active Substance: PANTOPRAZOLE SODIUM
  838. PANTOPRAZOLE SODIUM [Suspect]
     Active Substance: PANTOPRAZOLE SODIUM
  839. PANTOPRAZOLE SODIUM [Suspect]
     Active Substance: PANTOPRAZOLE SODIUM
     Dosage: 2 DOSAGE FORM, QD
  840. PANTOPRAZOLE SODIUM [Suspect]
     Active Substance: PANTOPRAZOLE SODIUM
  841. PANTOPRAZOLE SODIUM [Suspect]
     Active Substance: PANTOPRAZOLE SODIUM
  842. PANTOPRAZOLE SODIUM [Suspect]
     Active Substance: PANTOPRAZOLE SODIUM
     Dosage: 1 DOSAGE FORM, QD
  843. PANTOPRAZOLE SODIUM [Suspect]
     Active Substance: PANTOPRAZOLE SODIUM
     Dosage: 1 DOSAGE FORM, Q12H
  844. PANTOPRAZOLE SODIUM [Suspect]
     Active Substance: PANTOPRAZOLE SODIUM
  845. PANTOPRAZOLE SODIUM [Suspect]
     Active Substance: PANTOPRAZOLE SODIUM
  846. PANTOPRAZOLE SODIUM [Suspect]
     Active Substance: PANTOPRAZOLE SODIUM
  847. PANTOPRAZOLE SODIUM [Suspect]
     Active Substance: PANTOPRAZOLE SODIUM
     Dosage: 2 DOSAGE FORM, QD
  848. PANTOPRAZOLE SODIUM [Suspect]
     Active Substance: PANTOPRAZOLE SODIUM
     Dosage: 1 DOSAGE FORM, Q12H
  849. PANTOPRAZOLE SODIUM [Suspect]
     Active Substance: PANTOPRAZOLE SODIUM
     Dosage: 2 DOSAGE FORM, QD
  850. PANTOPRAZOLE SODIUM [Suspect]
     Active Substance: PANTOPRAZOLE SODIUM
  851. PANTOPRAZOLE SODIUM [Suspect]
     Active Substance: PANTOPRAZOLE SODIUM
  852. PANTOPRAZOLE SODIUM [Suspect]
     Active Substance: PANTOPRAZOLE SODIUM
     Dosage: 2 DOSAGE FORM, QD
  853. PANTOPRAZOLE SODIUM [Suspect]
     Active Substance: PANTOPRAZOLE SODIUM
     Dosage: 8 DOSAGE FORM, QD
  854. PANTOPRAZOLE SODIUM [Suspect]
     Active Substance: PANTOPRAZOLE SODIUM
  855. PANTOPRAZOLE MAGNESIUM [Suspect]
     Active Substance: PANTOPRAZOLE MAGNESIUM
     Indication: Product used for unknown indication
  856. PANTOPRAZOLE MAGNESIUM [Suspect]
     Active Substance: PANTOPRAZOLE MAGNESIUM
  857. PANTOPRAZOLE MAGNESIUM [Suspect]
     Active Substance: PANTOPRAZOLE MAGNESIUM
  858. PANTOPRAZOLE MAGNESIUM [Suspect]
     Active Substance: PANTOPRAZOLE MAGNESIUM
  859. PANTOPRAZOLE MAGNESIUM [Suspect]
     Active Substance: PANTOPRAZOLE MAGNESIUM
     Dosage: 2 DOSAGE FORM, QD
  860. PANTOPRAZOLE MAGNESIUM [Suspect]
     Active Substance: PANTOPRAZOLE MAGNESIUM
     Dosage: 1 DOSAGE FORM, Q12H
  861. PANTOPRAZOLE MAGNESIUM [Suspect]
     Active Substance: PANTOPRAZOLE MAGNESIUM
  862. PANTOPRAZOLE MAGNESIUM [Suspect]
     Active Substance: PANTOPRAZOLE MAGNESIUM
  863. PANTOPRAZOLE MAGNESIUM [Suspect]
     Active Substance: PANTOPRAZOLE MAGNESIUM
     Dosage: 40 MICROGRAM, BID
  864. PANTOPRAZOLE MAGNESIUM [Suspect]
     Active Substance: PANTOPRAZOLE MAGNESIUM
     Dosage: 2 DOSAGE FORM, QD
  865. PANTOPRAZOLE MAGNESIUM [Suspect]
     Active Substance: PANTOPRAZOLE MAGNESIUM
  866. PANTOPRAZOLE MAGNESIUM [Suspect]
     Active Substance: PANTOPRAZOLE MAGNESIUM
  867. PANTOPRAZOLE MAGNESIUM [Suspect]
     Active Substance: PANTOPRAZOLE MAGNESIUM
  868. ACTOS [Suspect]
     Active Substance: PIOGLITAZONE HYDROCHLORIDE
     Indication: Product used for unknown indication

REACTIONS (41)
  - Anxiety [Fatal]
  - Arteriosclerosis [Fatal]
  - Antineutrophil cytoplasmic antibody positive [Fatal]
  - Arteriosclerosis coronary artery [Fatal]
  - Asthma [Fatal]
  - Capillaritis [Fatal]
  - Condition aggravated [Fatal]
  - Conjunctivitis allergic [Fatal]
  - Death [Fatal]
  - Dust allergy [Fatal]
  - Dyspnoea [Fatal]
  - Eosinophilic granulomatosis with polyangiitis [Fatal]
  - Full blood count abnormal [Fatal]
  - Haemoptysis [Fatal]
  - Hypothyroidism [Fatal]
  - Hypoxia [Unknown]
  - Loss of personal independence in daily activities [Fatal]
  - Lung disorder [Fatal]
  - Mite allergy [Fatal]
  - Mycotic allergy [Fatal]
  - Neuritis [Fatal]
  - Neurological symptom [Fatal]
  - Nodule [Fatal]
  - Normochromic normocytic anaemia [Fatal]
  - Obstructive airways disorder [Fatal]
  - Pain in extremity [Fatal]
  - Productive cough [Fatal]
  - Pulmonary alveolar haemorrhage [Fatal]
  - Pulmonary embolism [Fatal]
  - Pulmonary fibrosis [Fatal]
  - Pulmonary vasculitis [Fatal]
  - Respiratory symptom [Fatal]
  - Sleep disorder due to a general medical condition [Fatal]
  - Spirometry abnormal [Fatal]
  - Therapeutic product effect incomplete [Fatal]
  - Thrombosis [Fatal]
  - Vasculitis [Fatal]
  - Wheezing [Fatal]
  - Forced expiratory volume decreased [Fatal]
  - Sleep disorder [Unknown]
  - Total lung capacity abnormal [Fatal]
